FAERS Safety Report 21615879 (Version 12)
Quarter: 2024Q1

REPORT INFORMATION
  Report Type: Spontaneous
  Country: CA (occurrence: DE)
  Receive Date: 20221118
  Receipt Date: 20240318
  Transmission Date: 20240410
  Serious: Yes (Death, Life-Threatening, Hospitalization, Disabling, Other)
  Sender: FDA-Public Use
  Company Number: CA-BAXTER-2022BAX015873

PATIENT
  Age: 80 Year
  Sex: Male
  Weight: 69 kg

DRUGS (547)
  1. NOREPINEPHRINE BITARTRATE [Suspect]
     Active Substance: NOREPINEPHRINE BITARTRATE
     Indication: Stress
     Dosage: QD, DOSAGE FORM - LIQUID INTRAVENOUS
     Route: 042
  2. NOREPINEPHRINE BITARTRATE [Suspect]
     Active Substance: NOREPINEPHRINE BITARTRATE
     Indication: Off label use
     Dosage: 30 MG, QD, DOSAGE FORM - LIQUID INTRAVENOUS
     Route: 048
  3. NOREPINEPHRINE BITARTRATE [Suspect]
     Active Substance: NOREPINEPHRINE BITARTRATE
     Indication: Intentional product misuse
     Dosage: 1 MILLIGRAM
     Route: 065
  4. NOREPINEPHRINE BITARTRATE [Suspect]
     Active Substance: NOREPINEPHRINE BITARTRATE
     Indication: Product used for unknown indication
     Dosage: DOSAGE FORM - LIQUID INTRAVENOUS
     Route: 042
  5. NOREPINEPHRINE BITARTRATE [Suspect]
     Active Substance: NOREPINEPHRINE BITARTRATE
     Dosage: 1 DF, DOSAGE FORM - LIQUID INTRAVENOUS
     Route: 048
  6. NOREPINEPHRINE BITARTRATE [Suspect]
     Active Substance: NOREPINEPHRINE BITARTRATE
     Dosage: 3 MG, QD, DOSAGE FORM - LIQUID INTRAVENOUS
     Route: 048
  7. CEFTRIAXONE [Suspect]
     Active Substance: CEFTRIAXONE\CEFTRIAXONE SODIUM
     Indication: Bacterial infection
     Dosage: 2 G, QD, DOSAGE FORM - POWDER FOR SOLUTION INTRAMUSCULAR
     Route: 042
     Dates: start: 20200530
  8. CEFTRIAXONE [Suspect]
     Active Substance: CEFTRIAXONE\CEFTRIAXONE SODIUM
     Indication: Off label use
     Dosage: 2 G, QD
     Route: 042
  9. CEFTRIAXONE [Suspect]
     Active Substance: CEFTRIAXONE\CEFTRIAXONE SODIUM
     Indication: Product used for unknown indication
     Dosage: 2 G, QD
     Route: 065
  10. CEFTRIAXONE [Suspect]
     Active Substance: CEFTRIAXONE\CEFTRIAXONE SODIUM
     Indication: Sepsis
     Dosage: 2 MG
     Route: 042
  11. CEFTRIAXONE [Suspect]
     Active Substance: CEFTRIAXONE\CEFTRIAXONE SODIUM
     Dosage: UNK
     Route: 065
  12. CEFTRIAXONE [Suspect]
     Active Substance: CEFTRIAXONE\CEFTRIAXONE SODIUM
     Dosage: 2 G, QD
     Route: 042
  13. ANTICOAGULANT SODIUM CITRATE [Suspect]
     Active Substance: SODIUM CITRATE
     Indication: Thrombosis
     Dosage: AS DIRECTED, BLOCK 2.5 ML, PRN (4GM/100ML SOLUTION UNASSIGNED)
     Route: 065
     Dates: start: 20200603
  14. ANTICOAGULANT SODIUM CITRATE [Suspect]
     Active Substance: SODIUM CITRATE
     Indication: Anticoagulant therapy
     Dosage: 2.5 ML, NECESSARY (4GM/100ML SOLUTION UNASSIGNED) ANTICOAGULANT
     Route: 065
  15. ANTICOAGULANT SODIUM CITRATE [Suspect]
     Active Substance: SODIUM CITRATE
     Dosage: DOSAGE FORM: SOLUTION UNASSIGNED: AS REQUIRED
     Route: 065
  16. ANTICOAGULANT SODIUM CITRATE [Suspect]
     Active Substance: SODIUM CITRATE
     Dosage: 2.5 ML AS REQUIRED
     Route: 065
  17. ANTICOAGULANT SODIUM CITRATE [Suspect]
     Active Substance: SODIUM CITRATE
     Dosage: 2.5 MG AS REQUIRED ONCE DAILY
     Route: 065
  18. ANTICOAGULANT SODIUM CITRATE [Suspect]
     Active Substance: SODIUM CITRATE
     Dosage: 2.5 ML DOSAGE FORM NOT SPECIFIED
     Route: 065
  19. POTASSIUM CHLORIDE [Suspect]
     Active Substance: POTASSIUM CHLORIDE
     Indication: Constipation
     Dosage: 17 GM, QD, DOSAGE FORM: NOT SPECIFIED
     Route: 065
  20. POTASSIUM CHLORIDE [Suspect]
     Active Substance: POTASSIUM CHLORIDE
     Indication: Product used for unknown indication
     Dosage: 17 GM, QD, DOSAGE FORM: NOT SPECIFIED
     Route: 048
  21. SODIUM BICARBONATE [Suspect]
     Active Substance: SODIUM BICARBONATE
     Indication: Product used for unknown indication
     Dosage: 12.5 GRAMS, DOSAGE FORM: NOT SPECIFIED
     Route: 042
  22. HEPARIN SODIUM [Suspect]
     Active Substance: HEPARIN SODIUM
     Indication: Anticoagulant therapy
     Dosage: AS DIRECTED 50 ML, PRN
     Route: 042
     Dates: start: 20200530
  23. HEPARIN SODIUM [Suspect]
     Active Substance: HEPARIN SODIUM
     Indication: Off label use
     Dosage: 50 ML, PRN, QD, DOSAGE FORM - SOLUTION INTRAVENOUS
     Route: 042
     Dates: start: 20200602, end: 20200602
  24. HEPARIN SODIUM [Suspect]
     Active Substance: HEPARIN SODIUM
     Indication: Intentional product misuse
     Dosage: 250 ML, AS REQUIRED SOULTION INTRAVENOUS
     Route: 042
  25. HEPARIN SODIUM [Suspect]
     Active Substance: HEPARIN SODIUM
     Indication: Product used for unknown indication
     Dosage: 50 ML, SOULTION FORI INJECTION ONCE DAILY
     Route: 042
  26. HEPARIN SODIUM [Suspect]
     Active Substance: HEPARIN SODIUM
     Dosage: 50 ML, SOLUTION INTRAVENOUS, AS REQUIRED
     Route: 042
  27. HEPARIN SODIUM [Suspect]
     Active Substance: HEPARIN SODIUM
     Dosage: DOSAGE FORM: SOLUTION INTRAVENOUS FREQUENCY: AS REQUIRED
     Route: 042
  28. HEPARIN SODIUM [Suspect]
     Active Substance: HEPARIN SODIUM
     Dosage: 250 ML, SOULTION FOR INJECTION
     Route: 042
  29. HEPARIN SODIUM [Suspect]
     Active Substance: HEPARIN SODIUM
     Dosage: 50 ML, SOULTION FOR INJECTION
     Route: 042
  30. HEPARIN SODIUM [Suspect]
     Active Substance: HEPARIN SODIUM
     Dosage: 50 ML, SOLUTION INTRAVENOUS, AS REQUIRED
     Route: 042
  31. HEPARIN SODIUM [Suspect]
     Active Substance: HEPARIN SODIUM
     Dosage: 50 ML, DOSAGE FORM - SOLUTION INTRAVENOUS
     Route: 017
  32. HEPARIN SODIUM [Suspect]
     Active Substance: HEPARIN SODIUM
     Dosage: DOSAGE FORM: SOLUTION FOR INFUSION, 50 ML, 1 DAYS
     Route: 065
  33. HEPARIN SODIUM [Suspect]
     Active Substance: HEPARIN SODIUM
     Dosage: DOSAGE FORM: SOLUTION FOR INFUSION, 1 EVERY 1 DAYS
     Route: 042
  34. HEPARIN SODIUM [Suspect]
     Active Substance: HEPARIN SODIUM
     Dosage: DOSAGE FORM: SOLUTION FOR INFUSION
     Route: 042
  35. HEPARIN SODIUM [Suspect]
     Active Substance: HEPARIN SODIUM
     Dosage: DOSAGE FORM: SOLUTION FOR INFUSION
     Route: 042
  36. DEXTROSE [Suspect]
     Active Substance: DEXTROSE\DEXTROSE MONOHYDRATE
     Indication: Nutritional supplementation
     Dosage: AS DIRECTED 12.5 G, PRN
     Route: 042
     Dates: start: 20200601
  37. DEXTROSE [Suspect]
     Active Substance: DEXTROSE\DEXTROSE MONOHYDRATE
     Indication: Product used for unknown indication
     Dosage: 12.5 MILLIGRAM AS REQUIRED DOSAGE FORM: NOT SPECIFIED
     Route: 042
  38. DEXTROSE [Suspect]
     Active Substance: DEXTROSE\DEXTROSE MONOHYDRATE
     Indication: Intentional product misuse
     Dosage: 12.5 GRAM (G), DOSAGE FORM: LIQUID PARENTERAL (UNSPECIFIED) FREQUENCY: AS REQUIRED
     Route: 042
  39. DEXTROSE [Suspect]
     Active Substance: DEXTROSE\DEXTROSE MONOHYDRATE
     Indication: Off label use
     Dosage: 12.5 GRAMS, DOSAGE FORM - NOT SPECIFIED
     Route: 042
  40. DEXTROSE [Suspect]
     Active Substance: DEXTROSE\DEXTROSE MONOHYDRATE
     Dosage: 12.5 GRAM ONE EVERY ONE DAY, DOSAGE FORM - NOT SPECIFIED
     Route: 042
  41. DEXTROSE [Suspect]
     Active Substance: DEXTROSE\DEXTROSE MONOHYDRATE
     Dosage: DOSAGE FORM NOT SPECIFIED
     Route: 042
  42. DEXTROSE [Suspect]
     Active Substance: DEXTROSE\DEXTROSE MONOHYDRATE
     Dosage: 1 DF, QD, DOSAGE FORM - NOT SPECIFIED,
     Route: 058
  43. DEXTROSE [Suspect]
     Active Substance: DEXTROSE\DEXTROSE MONOHYDRATE
     Dosage: 1.25 GM, AS REQUIRED, SOLUTION FOR INJECTION
     Route: 042
  44. MANNITOL [Suspect]
     Active Substance: MANNITOL
     Indication: Nutritional supplementation
     Dosage: 12.5 GRAMS,DOSAGE FORM - NOT SPECIFIED
     Route: 042
  45. MANNITOL [Suspect]
     Active Substance: MANNITOL
     Indication: Product used for unknown indication
  46. DEXTROSE\SODIUM CHLORIDE [Suspect]
     Active Substance: DEXTROSE\SODIUM CHLORIDE
     Indication: Off label use
     Dosage: 12.5 GRAMS, QD
     Route: 042
  47. DEXTROSE\SODIUM CHLORIDE [Suspect]
     Active Substance: DEXTROSE\SODIUM CHLORIDE
     Indication: Nutritional supplementation
     Dosage: 12.5 GRAMS
     Route: 042
  48. DEXTROSE\SODIUM CHLORIDE [Suspect]
     Active Substance: DEXTROSE\SODIUM CHLORIDE
     Indication: Intentional product misuse
     Dosage: 12.5 GRAMS
     Route: 065
  49. DEXTROSE\SODIUM CHLORIDE [Suspect]
     Active Substance: DEXTROSE\SODIUM CHLORIDE
     Dosage: UNK
     Route: 042
  50. DEXTROSE\SODIUM CHLORIDE [Suspect]
     Active Substance: DEXTROSE\SODIUM CHLORIDE
     Dosage: 12.5 GRAMS AS REQUIRED
     Route: 042
  51. METRONIDAZOLE [Suspect]
     Active Substance: METRONIDAZOLE
     Indication: Off label use
     Dosage: 500 MG, 1 EVERY 8 HRS
     Route: 065
  52. METRONIDAZOLE [Suspect]
     Active Substance: METRONIDAZOLE
     Indication: Intentional product misuse
  53. METRONIDAZOLE [Suspect]
     Active Substance: METRONIDAZOLE
     Indication: Bacterial infection
  54. SODIUM CHLORIDE [Suspect]
     Active Substance: SODIUM CHLORIDE
     Indication: Product used for unknown indication
     Route: 065
  55. ONDANSETRON [Suspect]
     Active Substance: ONDANSETRON
     Indication: Vomiting
     Dosage: 4 MILLIGRAMS,3X A DAY
     Route: 042
     Dates: start: 20200601
  56. ONDANSETRON [Suspect]
     Active Substance: ONDANSETRON
     Indication: Nausea
     Dosage: 12 MG, Q8H, DOSAGE FORM - NOT SPECIFIED
     Route: 042
  57. ONDANSETRON [Suspect]
     Active Substance: ONDANSETRON
     Dosage: 41 MG, Q8H
     Route: 042
  58. ONDANSETRON [Suspect]
     Active Substance: ONDANSETRON
     Dosage: 108 MILLIGRAMS
     Route: 042
  59. ONDANSETRON [Suspect]
     Active Substance: ONDANSETRON
     Dosage: 36 MILLIGRAMS, 3 EVERY 1 DAYS, DOSAGE FORM - NOT SPECIFIED
     Route: 042
  60. ONDANSETRON [Suspect]
     Active Substance: ONDANSETRON
     Dosage: 120 MILLIGRAMS
     Route: 042
  61. ONDANSETRON [Suspect]
     Active Substance: ONDANSETRON
     Dosage: 1 DOSAGE FORM (1 EVERY 1 DAYS), DOSAGE FORM - NOT SPECIFIED
     Route: 042
  62. ONDANSETRON [Suspect]
     Active Substance: ONDANSETRON
     Dosage: 4 MG, 1 EVERY 3 DAYS, DOSAGE FORM - NOT SPECIFIED
     Route: 042
  63. ONDANSETRON [Suspect]
     Active Substance: ONDANSETRON
     Dosage: 4 MG, ONCE EVERY 8 HOURS, DOSAGE FORM - NOT SPECIFIED
     Route: 042
  64. ONDANSETRON [Suspect]
     Active Substance: ONDANSETRON
     Dosage: 41.14 MG, ONCE, DOSAGE FORM - NOT SPECIFIED
     Route: 042
  65. ONDANSETRON [Suspect]
     Active Substance: ONDANSETRON
     Dosage: 8 MG,ONCE EVERY 8 HOURS, DOSAGE FORM - NOT SPECIFIED
     Route: 042
  66. ONDANSETRON [Suspect]
     Active Substance: ONDANSETRON
     Dosage: 40MG, TID, DOSAGE FORM - NOT SPECIFIED
     Route: 042
  67. ONDANSETRON [Suspect]
     Active Substance: ONDANSETRON
     Dosage: 24 MG, ONCE EVERY 8 HOURS, DOSAGE FORM - NOT SPECIFIED
     Route: 065
  68. ONDANSETRON [Suspect]
     Active Substance: ONDANSETRON
     Dosage: 12 MG, 1 EVERY 8 HOURS, DOSAGE FORM - NOT SPECIFIED
     Route: 042
  69. ONDANSETRON [Suspect]
     Active Substance: ONDANSETRON
     Dosage: 12 MG, 1 EVERY 3 DAYS, DOSAGE FORM - NOT SPECIFIED
     Route: 042
  70. ONDANSETRON [Suspect]
     Active Substance: ONDANSETRON
     Dosage: 4 MG, QD, DOSAGE FORM - NOT SPECIFIED
     Route: 042
  71. ONDANSETRON [Suspect]
     Active Substance: ONDANSETRON
     Dosage: DOSAGE FORM: SOLUTION FOR INJECTION
     Route: 065
  72. UNSPECIFIED INGREDIENT [Suspect]
     Active Substance: UNSPECIFIED INGREDIENT
     Indication: Anticoagulant therapy
     Dosage: 250 MILLILITRES, QD
     Route: 042
  73. UNSPECIFIED INGREDIENT [Suspect]
     Active Substance: UNSPECIFIED INGREDIENT
     Dosage: 50 MILLILETRES, QD
     Route: 042
  74. METRONIDAZOLE [Suspect]
     Active Substance: METRONIDAZOLE
     Indication: Off label use
     Dosage: 500 MG, Q8H, DOSAGE FORM: NOT SPECIFIED
     Route: 048
     Dates: start: 20200530
  75. METRONIDAZOLE [Suspect]
     Active Substance: METRONIDAZOLE
     Indication: Intentional product misuse
     Dosage: 550 MG, Q8H, DOSAGE FORM: NOT SPECIFIED
     Route: 048
     Dates: start: 20200530
  76. METRONIDAZOLE [Suspect]
     Active Substance: METRONIDAZOLE
     Indication: Bacterial infection
     Dosage: 500 MG, QD, DOSAGE FORM: NOT SPECIFIED
     Route: 048
     Dates: start: 20200530
  77. METRONIDAZOLE [Suspect]
     Active Substance: METRONIDAZOLE
     Dosage: 500 MG, TID, DOSAGE FORM: NOT SPECIFIED
     Route: 048
     Dates: start: 20200530
  78. METRONIDAZOLE [Suspect]
     Active Substance: METRONIDAZOLE
     Dosage: 1500 MG, QD, DOSAGE FORM: NOT SPECIFIED
     Route: 048
     Dates: start: 20200530
  79. METRONIDAZOLE [Suspect]
     Active Substance: METRONIDAZOLE
     Dosage: 1 EVERY 1 AYS
     Route: 048
  80. METRONIDAZOLE [Suspect]
     Active Substance: METRONIDAZOLE
     Dosage: 1 EVERY 8 HRS
     Route: 048
  81. ACETAMINOPHEN [Suspect]
     Active Substance: ACETAMINOPHEN
     Indication: Analgesic therapy
     Dosage: 650 MG, QD, DOSAGE FORM - NOT SPECIFIED
     Route: 048
     Dates: start: 20200527
  82. ACETAMINOPHEN [Suspect]
     Active Substance: ACETAMINOPHEN
     Indication: Off label use
     Dosage: 65 MILLIGRAM ONCE DAILY
     Route: 048
  83. ACETAMINOPHEN [Suspect]
     Active Substance: ACETAMINOPHEN
     Indication: Intentional product misuse
     Dosage: 650 GRAMS, QD, DOSAGE FORM - NOT SPECIFIED
     Route: 048
  84. ACETAMINOPHEN [Suspect]
     Active Substance: ACETAMINOPHEN
     Dosage: AT AN UNSPECIFIED DOSE AND FREQUENCY, DOSAGE FORM: NOT SPECIFIED
     Route: 048
  85. HERBALS\HOMEOPATHICS [Suspect]
     Active Substance: HERBALS\HOMEOPATHICS
     Indication: Constipation
     Dosage: 17 GRAMS, QD
     Route: 048
  86. ALLOPURINOL [Suspect]
     Active Substance: ALLOPURINOL
     Indication: Blood uric acid increased
     Dosage: MORNING, 100 MG, QD
     Route: 048
     Dates: start: 20200527
  87. ALLOPURINOL [Suspect]
     Active Substance: ALLOPURINOL
     Indication: Intentional product misuse
     Dosage: 1 DF, QD
     Route: 048
  88. ALLOPURINOL [Suspect]
     Active Substance: ALLOPURINOL
     Indication: Off label use
     Dosage: 100 MILLIGRAM ONCE DAILY
     Route: 048
  89. ALLOPURINOL [Suspect]
     Active Substance: ALLOPURINOL
     Dosage: 100 MILLIGRAM (MG)
     Route: 048
  90. ALLOPURINOL [Suspect]
     Active Substance: ALLOPURINOL
     Dosage: 1 DOSAGE FORM
     Route: 048
  91. ALUMINUM HYDROXIDE\DIMETHICONE\MAGNESIUM HYDROXIDE [Suspect]
     Active Substance: ALUMINUM HYDROXIDE\DIMETHICONE\MAGNESIUM HYDROXIDE
     Indication: Constipation
     Dosage: 133 MILLILITRES, DOSAGE FORM: NOT SPECIFIED
     Route: 054
  92. ALLANTOIN [Suspect]
     Active Substance: ALLANTOIN
     Indication: Constipation
     Dosage: 17 GMS, 1 EVERY 1 DAY, DOSAGE FORM: NOT SPECIFIED
     Route: 048
  93. ALLANTOIN [Suspect]
     Active Substance: ALLANTOIN
     Indication: Intentional product misuse
     Dosage: DOSAGE FORM: NOT SPECIFIED
     Route: 048
  94. ALLANTOIN [Suspect]
     Active Substance: ALLANTOIN
     Indication: Off label use
  95. ALOE VERA LEAF [Suspect]
     Active Substance: ALOE VERA LEAF
     Indication: Constipation
     Dosage: DOSAGE FORM: NOT SPECIFIED
     Route: 065
  96. ALUMINUM HYDROXIDE\MAGNESIUM HYDROXIDE [Suspect]
     Active Substance: ALUMINUM HYDROXIDE\MAGNESIUM HYDROXIDE
     Indication: Constipation
     Dosage: 133 ML AS REQUIRED
     Route: 054
  97. AMINOBENZOIC ACID [Suspect]
     Active Substance: AMINOBENZOIC ACID
     Indication: Product used for unknown indication
     Dosage: 12.5 MILLIGRAMS
     Route: 065
  98. AMIODARONE [Suspect]
     Active Substance: AMIODARONE
     Indication: Ventricular fibrillation
     Dosage: 150 MILLIGRAMS (1 EVERY 1 DAYS), DOSAGE FORM: NOT SPECIFIED
     Route: 042
  99. AMIODARONE [Suspect]
     Active Substance: AMIODARONE
     Indication: Drug therapy
     Dosage: 1 EVERY 1 DAYS, DOSAGE FORM: NOT SPECIFIED
     Route: 042
  100. AMIODARONE [Suspect]
     Active Substance: AMIODARONE
     Indication: Off label use
     Dosage: 12.78 ML, DOSAGE FORM: NOT SPECIFIED
     Route: 042
  101. AMIODARONE [Suspect]
     Active Substance: AMIODARONE
     Indication: Intentional product misuse
  102. AMIODARONE HYDROCHLORIDE [Suspect]
     Active Substance: AMIODARONE HYDROCHLORIDE
     Indication: Ventricular fibrillation
     Dosage: 150 MG, QD
     Route: 042
     Dates: start: 20200602, end: 20200602
  103. AMIODARONE HYDROCHLORIDE [Suspect]
     Active Substance: AMIODARONE HYDROCHLORIDE
     Indication: Drug therapy
     Dosage: CONTINUOUS, 27.78 ML/H
     Route: 042
     Dates: start: 20200603
  104. AMIODARONE HYDROCHLORIDE [Suspect]
     Active Substance: AMIODARONE HYDROCHLORIDE
     Indication: Intentional product misuse
     Dosage: 150 MG, QD, , DOSAGE FORM - LIQUID INTRAVENOUS
     Route: 042
  105. AMIODARONE HYDROCHLORIDE [Suspect]
     Active Substance: AMIODARONE HYDROCHLORIDE
     Indication: Off label use
     Dosage: ONCE DAILY, DOSAGE FORM - LIQUID INTRAVENOUS
     Route: 042
  106. AMIODARONE HYDROCHLORIDE [Suspect]
     Active Substance: AMIODARONE HYDROCHLORIDE
     Dosage: UNK
     Route: 065
  107. AMMONIUM CHLORIDE [Suspect]
     Active Substance: AMMONIUM CHLORIDE
     Indication: Thrombosis
     Dosage: 2.5 ML, AS NEEDED
     Route: 048
  108. AMMONIUM CHLORIDE [Suspect]
     Active Substance: AMMONIUM CHLORIDE
     Dosage: 2.5 ML, QD
     Route: 065
  109. ARANESP [Suspect]
     Active Substance: DARBEPOETIN ALFA
     Indication: Anaemia
     Dosage: 10 UG, EVERY 2 WEEKS
     Route: 042
     Dates: start: 20200528
  110. ARANESP [Suspect]
     Active Substance: DARBEPOETIN ALFA
     Dosage: 0.714 UG, QOW (SOLUTION INTRAVENOUS)
     Route: 042
  111. ARANESP [Suspect]
     Active Substance: DARBEPOETIN ALFA
     Dosage: 10 MG, Q2WEEKS, DOSAGE FORM: SOLUTION INTRAVENOUS
     Route: 042
  112. ARANESP [Suspect]
     Active Substance: DARBEPOETIN ALFA
     Dosage: 1.42 MILLIGRAMS, (1 EVERY 1 WEEKS)
     Route: 042
  113. ARANESP [Suspect]
     Active Substance: DARBEPOETIN ALFA
     Dosage: 20 MILLIGRAMS, QD, DOSAGE FORM: SOLUTION INTRAVENOUS
     Route: 042
  114. ARANESP [Suspect]
     Active Substance: DARBEPOETIN ALFA
     Dosage: 0.71 MICROGRAMS, QD, DOSAGE FORM: SOLUTION INTRAVENOUS
     Route: 042
  115. ARANESP [Suspect]
     Active Substance: DARBEPOETIN ALFA
     Dosage: 1.42 MICROGRAMS, (1 EVERY 1 WEEKS), DOSAGE FORM - SOLUTION INTRAVENOUS
     Route: 042
  116. ARANESP [Suspect]
     Active Substance: DARBEPOETIN ALFA
     Dosage: 10 MG, DOSAGE FORM: SOLUTION INTRAVENOUS
     Route: 042
  117. ARANESP [Suspect]
     Active Substance: DARBEPOETIN ALFA
     Dosage: 10 UG, CYCLICAL, DOSAGE FORM: SOLUTION INTRAVENOUS
     Route: 042
  118. ARANESP [Suspect]
     Active Substance: DARBEPOETIN ALFA
     Dosage: 0.2 UG, ONCE IN EVERY WEEK, DOSAGE FORM - SOLUTION INTRAVENOUS
     Route: 065
  119. ARANESP [Suspect]
     Active Substance: DARBEPOETIN ALFA
     Dosage: DOSAGE FORM - SOLUTION INTRAVENOUS
     Route: 017
  120. ARANESP [Suspect]
     Active Substance: DARBEPOETIN ALFA
     Dosage: 10 MG, ONCE EVERY WEEK, DOSAGE FORM: SOLUTION INTRAVENOUS
     Route: 042
  121. ARANESP [Suspect]
     Active Substance: DARBEPOETIN ALFA
     Dosage: 0.71 UG, ONCE EVERY WEEK, DOSAGE FORM: SOLUTION INTRAVENOUS
     Route: 042
  122. ARANESP [Suspect]
     Active Substance: DARBEPOETIN ALFA
     Dosage: 0.71 UG, ONCE EVERY  TWO WEEKS, DOSAGE FORM - SOLUTION INTRAVENOUS
     Route: 042
  123. ARANESP [Suspect]
     Active Substance: DARBEPOETIN ALFA
     Dosage: DOSAGE FORM - SOLUTION INTRAVENOUS
     Route: 065
  124. ARANESP [Suspect]
     Active Substance: DARBEPOETIN ALFA
     Indication: Anaemia
     Dosage: 0.71 MILLIGRAMS 1 EVERY 2 WEEKS
     Route: 065
  125. ARANESP [Suspect]
     Active Substance: DARBEPOETIN ALFA
     Dosage: 0.714 MICROGRAMS, ONCE EVERY 2 WEEKS
     Route: 042
  126. ARANESP [Suspect]
     Active Substance: DARBEPOETIN ALFA
     Dosage: 10 MG
     Route: 065
  127. ARANESP [Suspect]
     Active Substance: DARBEPOETIN ALFA
     Dosage: 0.71 MILLIGRAMS 1 EVERY 2 WEEKS
     Route: 065
  128. ARANESP [Suspect]
     Active Substance: DARBEPOETIN ALFA
     Dosage: 0.71 MICROGRAMS, ONCE EVERY 1 DAY
     Route: 042
  129. ARANESP [Suspect]
     Active Substance: DARBEPOETIN ALFA
     Dosage: 10 MICROGRAMS ONE EVERY 2 WEEKS
     Route: 042
  130. ARANESP [Suspect]
     Active Substance: DARBEPOETIN ALFA
     Dosage: 0.71 MG 1 EVERY 1 WEEKS
     Route: 017
  131. ASCORBIC ACID [Suspect]
     Active Substance: ASCORBIC ACID
     Indication: Vitamin supplementation
     Dosage: 17 GRAMS, QD, DOSAGE FORM - NOT SPECIFIED
     Route: 048
  132. ASCORBIC ACID [Suspect]
     Active Substance: ASCORBIC ACID
     Indication: Constipation
  133. ASCORBIC ACID\POLYETHYLENE GLYCOL 4000\POTASSIUM CL\SOD ASCORBATE\SOD [Suspect]
     Active Substance: ASCORBIC ACID\POLYETHYLENE GLYCOL 4000\POTASSIUM CL\SOD ASCORBATE\SOD CL\SOD SULFATE
     Indication: Constipation
     Dosage: QD, DOSAGE FORM - POWDER FOR SOLUTION
     Route: 065
  134. ASCORBIC ACID\POLYETHYLENE GLYCOL 4000\POTASSIUM CL\SOD ASCORBATE\SOD [Suspect]
     Active Substance: ASCORBIC ACID\POLYETHYLENE GLYCOL 4000\POTASSIUM CL\SOD ASCORBATE\SOD CL\SOD SULFATE
     Indication: Iron deficiency
     Dosage: 17 MG, QD, DOSAGE FORM - POWDER FOR SOLUTION
     Route: 048
  135. ASCORBIC ACID\POLYETHYLENE GLYCOL 4000\POTASSIUM CL\SOD ASCORBATE\SOD [Suspect]
     Active Substance: ASCORBIC ACID\POLYETHYLENE GLYCOL 4000\POTASSIUM CL\SOD ASCORBATE\SOD CL\SOD SULFATE
     Dosage: 1 DF, ONCE EVERY 5 HOURS, DOSAGE FORM - POWDER FOR SOLUTION
     Route: 065
  136. ASCORBIC ACID\POLYETHYLENE GLYCOL 4000\POTASSIUM CL\SOD ASCORBATE\SOD [Suspect]
     Active Substance: ASCORBIC ACID\POLYETHYLENE GLYCOL 4000\POTASSIUM CL\SOD ASCORBATE\SOD CL\SOD SULFATE
     Dosage: 2.5 ML, DOSAGE FORM - POWDER FOR SOLUTION
     Route: 042
  137. ASCORBIC ACID\POLYETHYLENE GLYCOL 4000\POTASSIUM CL\SOD ASCORBATE\SOD [Suspect]
     Active Substance: ASCORBIC ACID\POLYETHYLENE GLYCOL 4000\POTASSIUM CL\SOD ASCORBATE\SOD CL\SOD SULFATE
     Dosage: 17 GM, QD, DOSAGE FORM - POWDER FOR SOLUTION
     Route: 048
  138. ASCORBIC ACID\POLYETHYLENE GLYCOL 4000\POTASSIUM CL\SOD ASCORBATE\SOD [Suspect]
     Active Substance: ASCORBIC ACID\POLYETHYLENE GLYCOL 4000\POTASSIUM CL\SOD ASCORBATE\SOD CL\SOD SULFATE
     Dosage: 3 MG, 1 EVERY 1 WEKS, DOSAGE FORM - POWDER FOR SOLUTION
     Route: 048
  139. ATROVENT [Suspect]
     Active Substance: IPRATROPIUM BROMIDE
     Indication: Dyspnoea
     Dosage: 1 DOSAGE FORM (1 EVERY 6 HOURS), DOSAGE FORM: NOT SPECIFIED
  140. ATROVENT [Suspect]
     Active Substance: IPRATROPIUM BROMIDE
     Indication: Sleep disorder therapy
     Dosage: ONCE EVERY 6 HOURS, DOSAGE FORM - NOT SPECIFIED
     Route: 050
  141. ATROVENT [Suspect]
     Active Substance: IPRATROPIUM BROMIDE
     Indication: Somnolence
     Dosage: ONCE EVERY 8 HOURS, DOSAGE FORM - NOT SPECIFIED
     Route: 050
  142. ATROVENT [Suspect]
     Active Substance: IPRATROPIUM BROMIDE
     Indication: Off label use
     Dosage: FOUR TIMES A DAY, DOSAGE FORM - NOT SPECIFIED
     Route: 065
  143. ATROVENT [Suspect]
     Active Substance: IPRATROPIUM BROMIDE
     Dosage: 1 DF, ONCE EVERY 8 HOURS, DOSAGE FORM - NOT SPECIFIED
     Route: 050
  144. ATROVENT [Suspect]
     Active Substance: IPRATROPIUM BROMIDE
     Dosage: 1 DF, ONCE EVERY 6 HOURS, DOSAGE FORM - NOT SPECIFIED
     Route: 050
  145. ATROVENT [Suspect]
     Active Substance: IPRATROPIUM BROMIDE
     Dosage: QD, DOSAGE FORM - NOT SPECIFIED
     Route: 050
  146. ATROVENT [Suspect]
     Active Substance: IPRATROPIUM BROMIDE
     Dosage: 1.O UNKNOWN, ONCE EVERY 4 DAYS, DOSAGE FORM - NOT SPECIFIED
  147. ATROVENT [Suspect]
     Active Substance: IPRATROPIUM BROMIDE
     Dosage: 1 DF, QD, DOSAGE FORM - NOT SPECIFIED
     Route: 065
  148. ATROVENT [Suspect]
     Active Substance: IPRATROPIUM BROMIDE
     Dosage: ONCE EVERY 4 DAYS, DOSAGE FORM - NOT SPECIFIED
     Route: 050
  149. ATROVENT [Suspect]
     Active Substance: IPRATROPIUM BROMIDE
     Dosage: UNK
  150. ATROVENT [Suspect]
     Active Substance: IPRATROPIUM BROMIDE
     Dosage: UNK
     Route: 050
  151. ATROVENT [Suspect]
     Active Substance: IPRATROPIUM BROMIDE
     Dosage: 1 EVERY 1 DAYS
  152. ATROVENT [Suspect]
     Active Substance: IPRATROPIUM BROMIDE
     Dosage: 4 EVERY 1 DAYS
  153. ATROVENT [Suspect]
     Active Substance: IPRATROPIUM BROMIDE
     Dosage: 1 EVERY 1 DAY (DOSAGE FORM - NOT SPECIFIED)
     Route: 050
  154. ATROVENT [Suspect]
     Active Substance: IPRATROPIUM BROMIDE
     Dosage: UNK
     Route: 050
  155. ATROVENT [Suspect]
     Active Substance: IPRATROPIUM BROMIDE
     Dosage: 1 DOSAGE FORM, 1 EVERY 8 HRS
     Route: 050
  156. ATROVENT [Suspect]
     Active Substance: IPRATROPIUM BROMIDE
     Dosage: 1 DOSAGE FORM, 1 EVERY 6 HRS
     Route: 050
  157. FLUTICASONE FUROATE [Suspect]
     Active Substance: FLUTICASONE FUROATE
     Dosage: DOSAGE FORM - SPRAY, METERED DOSE
     Route: 065
  158. FLUTICASONE FUROATE [Suspect]
     Active Substance: FLUTICASONE FUROATE
     Dosage: DOSAGE FORM - SPRAY, METERED DOSE
     Route: 048
  159. BETAMETHASONE [Suspect]
     Active Substance: BETAMETHASONE\BETAMETHASONE DIPROPIONATE
     Indication: Swelling
     Dosage: DOSE: 1 APPLICATION, PRN
     Route: 061
     Dates: start: 20200527
  160. BETAMETHASONE [Suspect]
     Active Substance: BETAMETHASONE\BETAMETHASONE DIPROPIONATE
     Indication: Off label use
     Dosage: 10 DF, DOSAGE FORM - OINTMENT TOPICAL
     Route: 065
  161. BETAMETHASONE [Suspect]
     Active Substance: BETAMETHASONE\BETAMETHASONE DIPROPIONATE
     Dosage: 1 DF, DOSAGE FORM - OINTMENT TOPICAL
     Route: 061
  162. BETAMETHASONE [Suspect]
     Active Substance: BETAMETHASONE\BETAMETHASONE DIPROPIONATE
     Dosage: 10 MILLIGRAM, DOSAGE FORM - OINTMENT TOPICAL
     Route: 061
  163. BETAMETHASONE [Suspect]
     Active Substance: BETAMETHASONE\BETAMETHASONE DIPROPIONATE
     Dosage: DOSAGE FORM - OINTMENT TOPICAL
     Route: 065
  164. BETAMETHASONE [Suspect]
     Active Substance: BETAMETHASONE\BETAMETHASONE DIPROPIONATE
     Dosage: 1 DF, DOSAGE FORM - OINTMENT TOPICAL
     Route: 065
  165. BETAMETHASONE [Suspect]
     Active Substance: BETAMETHASONE\BETAMETHASONE DIPROPIONATE
     Dosage: QD, DOSAGE FORM - OINTMENT TOPICAL
     Route: 061
  166. BETAMETHASONE [Suspect]
     Active Substance: BETAMETHASONE\BETAMETHASONE DIPROPIONATE
     Dosage: UNK
     Route: 061
  167. BETAMETHASONE [Suspect]
     Active Substance: BETAMETHASONE\BETAMETHASONE DIPROPIONATE
     Dosage: UNK
     Route: 061
  168. BETAMETHASONE [Suspect]
     Active Substance: BETAMETHASONE\BETAMETHASONE DIPROPIONATE
     Dosage: UNK
     Route: 061
  169. BETAMETHASONE [Suspect]
     Active Substance: BETAMETHASONE\BETAMETHASONE DIPROPIONATE
     Dosage: UNK
     Route: 061
  170. BETAMETHASONE [Suspect]
     Active Substance: BETAMETHASONE\BETAMETHASONE DIPROPIONATE
     Dosage: UNK
     Route: 061
  171. BETAMETHASONE [Suspect]
     Active Substance: BETAMETHASONE\BETAMETHASONE DIPROPIONATE
     Dosage: UNK
     Route: 061
  172. BETAMETHASONE [Suspect]
     Active Substance: BETAMETHASONE\BETAMETHASONE DIPROPIONATE
     Dosage: DOSAGE FORM: NOT SPECIFIED
     Route: 065
  173. BIOTIN [Suspect]
     Active Substance: BIOTIN
     Indication: Vitamin supplementation
     Route: 065
  174. BIOTIN [Suspect]
     Active Substance: BIOTIN
     Dosage: 5 MG 1 EVERY 1 DAYS
     Route: 042
  175. BIOTIN [Suspect]
     Active Substance: BIOTIN
     Dosage: DOSAGE FORM: NOT SPECIFIED
     Route: 042
  176. BIOTIN [Suspect]
     Active Substance: BIOTIN
     Dosage: UNK
     Route: 042
  177. BISACODYL [Suspect]
     Active Substance: BISACODYL
     Indication: Constipation
     Dosage: 10 MILLIGRAMS, QD, DOSAGE FORM: NOT SPECIFIED
     Route: 054
  178. BISACODYL [Suspect]
     Active Substance: BISACODYL
     Indication: Ventricular fibrillation
     Dosage: 10 MILLIGRAMS, QD, DOSAGE FORM - NOT SPECIFIED
     Route: 042
  179. BISACODYL [Suspect]
     Active Substance: BISACODYL
     Indication: Dyspnoea
     Dosage: 10 MILLIGRAMS, DOSAGE FORM - NOT SPECIFIED
     Route: 065
  180. BISACODYL [Suspect]
     Active Substance: BISACODYL
     Indication: Off label use
     Dosage: 10 MILLIGRAMS, DOSAGE FORM - NOT SPECIFIED
     Route: 054
  181. BISACODYL [Suspect]
     Active Substance: BISACODYL
     Indication: Drug therapy
     Dosage: 10 MG AS REQUIRED
     Route: 042
  182. BISACODYL [Suspect]
     Active Substance: BISACODYL
     Dosage: 10 MG
     Route: 042
  183. BISACODYL [Suspect]
     Active Substance: BISACODYL
     Dosage: 10 MG 1 EVERY 1 DAYS
     Route: 054
  184. BISACODYL [Suspect]
     Active Substance: BISACODYL
     Dosage: 10 MG AS REQUIRED
     Route: 054
  185. BISACODYL [Suspect]
     Active Substance: BISACODYL
     Dosage: UNK
     Route: 065
  186. BISACODYL [Suspect]
     Active Substance: BISACODYL
     Dosage: UNK
     Route: 065
  187. CALCITRIOL [Suspect]
     Active Substance: CALCITRIOL
     Indication: Vitamin D
     Dosage: 0.25 MICROGRAMS (1 EVERY 1 DAYS), DOSAGE FORM: NOT SPECIFIED
     Route: 048
     Dates: start: 20200528
  188. CALCITRIOL [Suspect]
     Active Substance: CALCITRIOL
     Indication: Hypovitaminosis
     Dosage: 500 MILLIGRAMS, ONCE EVERY 8 HOURS, DOSAGE FORM: NOT SPECIFIED
     Route: 048
  189. CALCITRIOL [Suspect]
     Active Substance: CALCITRIOL
     Indication: Vitamin D deficiency
     Dosage: 1 EVERY 1 DAYS
     Route: 065
  190. CALCITRIOL [Suspect]
     Active Substance: CALCITRIOL
     Dosage: UNK
     Route: 065
  191. CALCITRIOL [Suspect]
     Active Substance: CALCITRIOL
     Dosage: DOSAGE FORM: NOT SPECIFIED, 0.25 MG, 1 EVERY 1 DAYS
     Route: 048
  192. CALCITRIOL [Suspect]
     Active Substance: CALCITRIOL
     Dosage: UNK
     Route: 048
  193. CALCITRIOL [Suspect]
     Active Substance: CALCITRIOL
     Indication: Vitamin D
     Dosage: 500 MG 1 EVERY 8 HRS
     Route: 048
  194. CALCITRIOL [Suspect]
     Active Substance: CALCITRIOL
     Dosage: 0.25 MG
     Route: 048
  195. BETA CAROTENE [Suspect]
     Active Substance: BETA CAROTENE
     Indication: Product used for unknown indication
     Dosage: DOSAGE FORM: NOT SPECIFIED
     Route: 065
  196. CHLORAMPHENICOL [Suspect]
     Active Substance: CHLORAMPHENICOL
     Indication: Bacterial infection
     Dosage: 1500 MG, DOSAGE FORM - NOT SPECIFIED
     Route: 065
  197. CHLORAMPHENICOL [Suspect]
     Active Substance: CHLORAMPHENICOL
     Dosage: UNK
     Route: 065
  198. DIPYRONE [Suspect]
     Active Substance: DIPYRONE
     Indication: Product used for unknown indication
     Dosage: DOSAGE FORM: SOLUTION INTRAMUSCULAR
     Route: 030
  199. DIPYRONE [Suspect]
     Active Substance: DIPYRONE
     Indication: Vitamin supplementation
     Dosage: 5 MILLIGRAMS, QD, DOSAGE FORM: SOLUTION INTRAMUSCULAR
     Route: 042
  200. DIPYRONE [Suspect]
     Active Substance: DIPYRONE
     Indication: Off label use
     Dosage: UNK
     Route: 042
  201. DIPYRONE [Suspect]
     Active Substance: DIPYRONE
     Indication: Intentional product misuse
     Dosage: UNK
     Route: 042
  202. DIPYRONE [Suspect]
     Active Substance: DIPYRONE
     Dosage: 5 MG 1 EVERY 1 DAYS
     Route: 042
  203. DIPYRONE [Suspect]
     Active Substance: DIPYRONE
     Dosage: 5 MG 1 EVERY 1 DAYS
     Route: 042
  204. DIPYRONE [Suspect]
     Active Substance: DIPYRONE
     Dosage: 1 MG
     Route: 065
  205. DIPYRONE [Suspect]
     Active Substance: DIPYRONE
     Indication: Product used for unknown indication
     Route: 042
  206. DIPYRONE [Suspect]
     Active Substance: DIPYRONE
     Indication: Vitamin supplementation
  207. DIPYRONE [Suspect]
     Active Substance: DIPYRONE
     Indication: Off label use
  208. DIPYRONE [Suspect]
     Active Substance: DIPYRONE
     Indication: Intentional product misuse
  209. DISTIGMINE BROMIDE [Suspect]
     Active Substance: DISTIGMINE BROMIDE
     Indication: Dyspnoea
     Dosage: 1 INTERNATIONAL UNIT, QD
     Route: 048
  210. DISTIGMINE BROMIDE [Suspect]
     Active Substance: DISTIGMINE BROMIDE
     Indication: Product used for unknown indication
     Dosage: UNK
     Route: 065
  211. DISTIGMINE BROMIDE [Suspect]
     Active Substance: DISTIGMINE BROMIDE
     Indication: Off label use
     Dosage: UNK
     Route: 065
  212. DOBUTAMINE HYDROCHLORIDE [Suspect]
     Active Substance: DOBUTAMINE HYDROCHLORIDE
     Indication: Cardiogenic shock
     Dosage: CONTINOUS, 2.07 ML/H, DOSAGE FORM - SOLUTION INTRAVENOUS
     Route: 042
     Dates: start: 20200601
  213. DOBUTAMINE HYDROCHLORIDE [Suspect]
     Active Substance: DOBUTAMINE HYDROCHLORIDE
     Dosage: 3.11 MILLILITRE PER HOUR,CONTINUOUS
     Route: 042
     Dates: start: 20200602
  214. DOBUTAMINE HYDROCHLORIDE [Suspect]
     Active Substance: DOBUTAMINE HYDROCHLORIDE
     Dosage: UNK
     Route: 042
  215. DOBUTAMINE HYDROCHLORIDE [Suspect]
     Active Substance: DOBUTAMINE HYDROCHLORIDE
     Dosage: UNK
     Route: 065
  216. DOBUTAMINE HYDROCHLORIDE [Suspect]
     Active Substance: DOBUTAMINE HYDROCHLORIDE
     Dosage: UNK
     Route: 042
  217. DOCUSATE SODIUM [Suspect]
     Active Substance: DOCUSATE SODIUM
     Indication: Product used for unknown indication
     Dosage: DOSAGE FORM: NOT SPECIFIED
     Route: 065
  218. FLUTICASONE [Suspect]
     Active Substance: FLUTICASONE
     Indication: Product used for unknown indication
     Route: 065
  219. FRAGMIN [Suspect]
     Active Substance: DALTEPARIN SODIUM
     Indication: Pulmonary embolism
     Dosage: 2.5 ML, PRN, DOSAGE FORM: SOLUTION INTRAVENOUS
     Route: 065
  220. FRAGMIN [Suspect]
     Active Substance: DALTEPARIN SODIUM
     Indication: Thrombosis
     Dosage: 12.5 MILLIGRAMS, DOSAGE FORM: SOLUTION INTRAVENOUS
     Route: 048
  221. FRAGMIN [Suspect]
     Active Substance: DALTEPARIN SODIUM
     Indication: Product used for unknown indication
     Dosage: 2.5 ML, PRN, DOSAGE FORM: SOLUTION INTRAVENOUS
     Route: 065
  222. FRAGMIN [Suspect]
     Active Substance: DALTEPARIN SODIUM
     Dosage: UNK
     Route: 042
  223. FRAGMIN [Suspect]
     Active Substance: DALTEPARIN SODIUM
     Dosage: DOSAGE FORM: SOLUTION INTRAVENOUS
     Route: 048
  224. FRAGMIN [Suspect]
     Active Substance: DALTEPARIN SODIUM
     Dosage: 2.5 ML DOSAGE FORM: SOLUTION FOR INFUSION
     Route: 065
  225. FRAGMIN [Suspect]
     Active Substance: DALTEPARIN SODIUM
     Dosage: DOSAGE FORM: SOLUTION FOR INFUSION
     Route: 065
  226. GABAPENTIN [Suspect]
     Active Substance: GABAPENTIN
     Indication: Neuralgia
     Dosage: AT BED TIME 100 MG, QD, EVERY 2 H
     Route: 048
     Dates: start: 20200527
  227. GABAPENTIN [Suspect]
     Active Substance: GABAPENTIN
     Indication: Intentional product misuse
     Dosage: 100 MG, QD, DOSAGE FORM: NOT SPECIFIED
     Route: 048
  228. GABAPENTIN [Suspect]
     Active Substance: GABAPENTIN
     Indication: Product used for unknown indication
     Dosage: 100 MG 1 EVERY 1 DAYS
     Route: 065
  229. GABAPENTIN [Suspect]
     Active Substance: GABAPENTIN
     Indication: Off label use
     Dosage: UNK
     Route: 065
  230. GABAPENTIN [Suspect]
     Active Substance: GABAPENTIN
     Indication: Bacterial infection
  231. HERBALS\PAULLINIA CUPANA SEED [Suspect]
     Active Substance: HERBALS\PAULLINIA CUPANA SEED
     Indication: Product used for unknown indication
     Dosage: 17 MG, DOSAGE FORM: NOT SPECIFIED
     Route: 042
  232. HERBALS\PAULLINIA CUPANA SEED [Suspect]
     Active Substance: HERBALS\PAULLINIA CUPANA SEED
     Indication: Nutritional supplementation
     Dosage: 12.5 MG, DOSAGE FORM: NOT SPECIFIED
     Route: 042
  233. HORSE CHESTNUT [Suspect]
     Active Substance: HORSE CHESTNUT
     Indication: Product used for unknown indication
     Dosage: DOSAGE FORM: NOT SPECIFIED
     Route: 065
  234. HYDROMORPHONE [Suspect]
     Active Substance: HYDROMORPHONE
     Indication: Analgesic therapy
     Dosage: 4 MILLIGRAM S(1 EVERY 1 DAYS)
     Route: 058
  235. HYDROMORPHONE [Suspect]
     Active Substance: HYDROMORPHONE
     Indication: Product used for unknown indication
     Dosage: 6 MG (1 EVERY 6 HOURS)
     Route: 058
  236. HYDROMORPHONE [Suspect]
     Active Substance: HYDROMORPHONE
     Indication: Off label use
     Dosage: 24 MG (1 EVERY 1 DAYS)
     Route: 065
  237. HYDROMORPHONE [Suspect]
     Active Substance: HYDROMORPHONE
     Indication: Intentional product misuse
     Dosage: 1 MILLIGRAM (1 EVERY 4 HOURS)
     Route: 058
  238. HYDROMORPHONE [Suspect]
     Active Substance: HYDROMORPHONE
     Dosage: 4 MILLIGRAM (1 EVERY 4 HOURS)
     Route: 058
  239. HYDROMORPHONE [Suspect]
     Active Substance: HYDROMORPHONE
     Dosage: 6 MILLIGRAM (1 EVERY 4 HOURS)
     Route: 058
  240. HYDROMORPHONE [Suspect]
     Active Substance: HYDROMORPHONE
     Dosage: 6 MILLIGRAM (6 EVERY 1 DAYS)
     Route: 058
  241. HYDROMORPHONE [Suspect]
     Active Substance: HYDROMORPHONE
     Dosage: 6 MILLIGRAM (1 EVERY 4 DAYS)
     Route: 058
  242. HYDROMORPHONE [Suspect]
     Active Substance: HYDROMORPHONE
     Dosage: 1 MILLIGRAM (1 EVERY 4 DAYS)
     Route: 058
  243. HYDROMORPHONE [Suspect]
     Active Substance: HYDROMORPHONE
     Dosage: 24 MILLIGRAM (1 EVERY 4 HOURS)
     Route: 058
  244. HYDROMORPHONE [Suspect]
     Active Substance: HYDROMORPHONE
     Dosage: 6 MILLIGRAM (1 EVERY 6 HOURS)
     Route: 058
  245. HYDROMORPHONE [Suspect]
     Active Substance: HYDROMORPHONE
     Dosage: 24 MILLIGRAM (1 EVERY 6 HOURS)
     Route: 058
  246. HYDROMORPHONE [Suspect]
     Active Substance: HYDROMORPHONE
     Dosage: 24 MILLIGRAM (4 EVERY 1 DAYS)
     Route: 065
  247. HYDROMORPHONE [Suspect]
     Active Substance: HYDROMORPHONE
     Dosage: 96 MG 1 EVERY 1 DAYS
     Route: 058
  248. HYDROMORPHONE [Suspect]
     Active Substance: HYDROMORPHONE
     Dosage: 17 DOSAGE FORMS
     Route: 065
  249. HYDROMORPHONE [Suspect]
     Active Substance: HYDROMORPHONE
     Dosage: DOSAGE FORM: NOT SPECIFIED, 6 MG 4 EVERY 1 DAYS
     Route: 065
  250. HYDROMORPHONE [Suspect]
     Active Substance: HYDROMORPHONE
     Dosage: DOSAGE FORM: PROLONGED RELEASE TABLET
     Route: 065
  251. IPRATROPIUM [Suspect]
     Active Substance: IPRATROPIUM
     Indication: Dyspnoea
     Dosage: UNK
     Route: 006
  252. IPRATROPIUM [Suspect]
     Active Substance: IPRATROPIUM
     Indication: Sleep disorder therapy
     Dosage: 1 DF, 4 EVERY 1 DAYS, DOSAGE FORM - NOT SPECIFIED
     Route: 065
  253. IPRATROPIUM [Suspect]
     Active Substance: IPRATROPIUM
     Indication: Intentional product misuse
     Dosage: 1 DF, QD , DOSAGE FORM - NOT SPECIFIED
     Route: 065
  254. IPRATROPIUM [Suspect]
     Active Substance: IPRATROPIUM
     Dosage: 1 EVERY 1 DAY
  255. IPRATROPIUM [Suspect]
     Active Substance: IPRATROPIUM
     Dosage: UNK
  256. IPRATROPIUM [Suspect]
     Active Substance: IPRATROPIUM
     Dosage: 1 EVERY 1 DAY
     Route: 050
  257. IPRATROPIUM [Suspect]
     Active Substance: IPRATROPIUM
     Dosage: 1 DOSAGE FORM
     Route: 050
  258. IPRATROPIUM [Suspect]
     Active Substance: IPRATROPIUM
     Dosage: 1 DOSAGE FORM 1 EVERY  1 DAY
     Route: 050
  259. IPRATROPIUM [Suspect]
     Active Substance: IPRATROPIUM
     Dosage: 1 DOSAGE FORM 1 EVERY  1 DAY
     Route: 065
  260. IPRATROPIUM [Suspect]
     Active Substance: IPRATROPIUM
     Dosage: 1 DOSAGE FORM 1 EVERY 8 HRS
     Route: 065
  261. IPRATROPIUM [Suspect]
     Active Substance: IPRATROPIUM
     Dosage: 1 DOSAGE FORM
     Route: 065
  262. LANSOPRAZOLE [Suspect]
     Active Substance: LANSOPRAZOLE
     Indication: Antacid therapy
     Dosage: 30 MILLIGRAMS (MG) 1 EVERY 1 DAY, DOSAGE FORM: CAPSULE DELAYED RELEASE
     Route: 048
  263. LANSOPRAZOLE [Suspect]
     Active Substance: LANSOPRAZOLE
     Indication: Product used for unknown indication
  264. LANSOPRAZOLE [Suspect]
     Active Substance: LANSOPRAZOLE
     Indication: Off label use
  265. LANSOPRAZOLE [Suspect]
     Active Substance: LANSOPRAZOLE
     Indication: Intentional product misuse
  266. LANTHANUM CARBONATE [Suspect]
     Active Substance: LANTHANUM CARBONATE
     Indication: Blood phosphorus increased
     Dosage: AS DIRECTED 500 MG, PRN, QD
     Route: 048
     Dates: start: 20200527
  267. LANTHANUM CARBONATE [Suspect]
     Active Substance: LANTHANUM CARBONATE
     Indication: Hyperphosphataemia
     Dosage: 500 MG
     Route: 048
  268. LANTHANUM CARBONATE [Suspect]
     Active Substance: LANTHANUM CARBONATE
     Indication: Product used for unknown indication
     Dosage: AS DIRECTED 550 MG, PRN, QD
     Route: 048
     Dates: start: 20200527
  269. LANTHANUM CARBONATE [Suspect]
     Active Substance: LANTHANUM CARBONATE
     Indication: Off label use
     Dosage: AS DIRECTED 550 MG, PRN, QD
     Route: 048
     Dates: start: 20200527
  270. LANTHANUM CARBONATE [Suspect]
     Active Substance: LANTHANUM CARBONATE
     Indication: Intentional product misuse
     Dosage: DOSAGE FORM: CHEWABLE TABLET, 1 EVERY 1 DAYS
     Route: 065
  271. LANTHANUM CARBONATE [Suspect]
     Active Substance: LANTHANUM CARBONATE
     Indication: Cardiogenic shock
     Dosage: DOSAGE FORM: CHEWABLE TABLET, 1 EVERY 1 DAYS
     Route: 065
  272. LANTHANUM CARBONATE [Suspect]
     Active Substance: LANTHANUM CARBONATE
     Dosage: DOSAGE FORM: CHEWABLE TABLET, 1 EVERY 1 DAYS, 500 MG 1 EVERY 1 DAYS
     Route: 048
  273. LANTHANUM CARBONATE [Suspect]
     Active Substance: LANTHANUM CARBONATE
     Dosage: UNK
     Route: 065
  274. LANTHANUM CARBONATE [Suspect]
     Active Substance: LANTHANUM CARBONATE
     Dosage: DOSAGE FORM: CHEWABLE TABLET
     Route: 065
  275. LANTHANUM CARBONATE [Suspect]
     Active Substance: LANTHANUM CARBONATE
     Dosage: DOSAGE FORM: CHEWABLE TABLET
     Route: 065
  276. LANTHANUM CARBONATE [Suspect]
     Active Substance: LANTHANUM CARBONATE
     Dosage: DOSAGE FORM: CHEWABLE TABLET
     Route: 048
  277. POLYETHYLENE GLYCOL 3350 [Suspect]
     Active Substance: POLYETHYLENE GLYCOL 3350
     Indication: Constipation
     Dosage: 17 GRAMS (1 EVERY 1 DAYS), DOSAGE FORM - NOT SPECIFIED
     Route: 048
  278. POLYETHYLENE GLYCOL 3350 [Suspect]
     Active Substance: POLYETHYLENE GLYCOL 3350
     Indication: Product used for unknown indication
     Dosage: 3 MG, ONCE EVERY WEEK, DOSAGE FORM - NOT SPECIFIEDUNK
     Route: 048
  279. POLYETHYLENE GLYCOL 3350 [Suspect]
     Active Substance: POLYETHYLENE GLYCOL 3350
     Indication: Off label use
     Dosage: 17 MILLIGRAMS (1 EVERY 1 DAYS), DOSAGE FORM - NOT SPECIFIED
     Route: 048
  280. POLYETHYLENE GLYCOL 3350 [Suspect]
     Active Substance: POLYETHYLENE GLYCOL 3350
     Dosage: UNK
     Route: 048
  281. MELATONIN [Suspect]
     Active Substance: MELATONIN
     Indication: Sleep disorder therapy
     Dosage: AT BED TIME 3 MG, QD
     Route: 048
     Dates: start: 20200527
  282. MELATONIN [Suspect]
     Active Substance: MELATONIN
     Indication: Product used for unknown indication
     Dosage: 3 MG, QD, DOSAGE FORM: NOT SPECIFIED
     Route: 048
  283. MELATONIN [Suspect]
     Active Substance: MELATONIN
     Indication: Off label use
  284. MELATONIN [Suspect]
     Active Substance: MELATONIN
     Indication: Intentional product misuse
  285. NOREPINEPHRINE [Suspect]
     Active Substance: NOREPINEPHRINE\NOREPINEPHRINE BITARTRATE
     Indication: Stress
     Dosage: CONTINUOUS TITRATION
     Route: 042
     Dates: start: 20200601
  286. NOREPINEPHRINE [Suspect]
     Active Substance: NOREPINEPHRINE\NOREPINEPHRINE BITARTRATE
     Indication: Off label use
     Dosage: 1 DF, QD, DOSAGE FORM - NOT SPECIFIED
     Route: 048
  287. NOREPINEPHRINE [Suspect]
     Active Substance: NOREPINEPHRINE\NOREPINEPHRINE BITARTRATE
     Indication: Product used for unknown indication
     Dosage: 1 DF, QD, DOSAGE FORM - NOT SPECIFIED
     Route: 065
  288. NOREPINEPHRINE [Suspect]
     Active Substance: NOREPINEPHRINE\NOREPINEPHRINE BITARTRATE
     Indication: Intentional product misuse
     Dosage: 3 MG, QD, DOSAGE FORM - NOT SPECIFIED
     Route: 048
  289. NOREPINEPHRINE [Suspect]
     Active Substance: NOREPINEPHRINE\NOREPINEPHRINE BITARTRATE
     Dosage: ONCE, DOSAGE FORM - NOT SPECIFIED
     Route: 042
  290. NOVORAPID [Suspect]
     Active Substance: INSULIN ASPART
     Indication: Diabetes mellitus
     Dosage: DOSAGE FORM: SOLUTION SUBCUTANEOUS
     Route: 058
  291. NOVORAPID [Suspect]
     Active Substance: INSULIN ASPART
     Indication: Product used for unknown indication
     Dosage: DOSAGE FORM - NOT SPECIFIED
     Route: 058
  292. NOVORAPID [Suspect]
     Active Substance: INSULIN ASPART
     Indication: Off label use
     Dosage: DOSAGE FORM - NOT SPECIFIED
     Route: 048
  293. OSELTAMIVIR [Suspect]
     Active Substance: OSELTAMIVIR
     Indication: Product used for unknown indication
     Route: 065
  294. OSELTAMIVIR [Suspect]
     Active Substance: OSELTAMIVIR
     Dosage: 133 ML
     Route: 054
  295. PHYTONADIONE [Suspect]
     Active Substance: PHYTONADIONE
     Indication: Vitamin supplementation
     Dosage: WHEN NEEDED 5 MG, DOSAGE FORM: NOT SPECIFIED
     Route: 042
     Dates: start: 20200602
  296. PHYTONADIONE [Suspect]
     Active Substance: PHYTONADIONE
     Indication: Off label use
     Dosage: 5 MG, QD, DOSAGE FORM - NOT SPECIFIED
     Route: 017
  297. PHYTONADIONE [Suspect]
     Active Substance: PHYTONADIONE
     Dosage: 5 MG, DOSAGE FORM - NOT SPECIFIED
     Route: 017
  298. PHYTONADIONE [Suspect]
     Active Substance: PHYTONADIONE
     Dosage: 1 EVERY 1 DAYS
     Route: 042
  299. POLYETHYLENE GLYCOL [Suspect]
     Active Substance: POLYETHYLENE GLYCOL
     Indication: Constipation
     Dosage: EVERY EVENING 17 G, QD, DOSAGE FORM: NOT SPECIFIED
     Route: 048
     Dates: start: 20200601
  300. POLYETHYLENE GLYCOL [Suspect]
     Active Substance: POLYETHYLENE GLYCOL
     Dosage: 17 GRAM,QD
     Route: 048
     Dates: start: 20200602
  301. POLYETHYLENE GLYCOL [Suspect]
     Active Substance: POLYETHYLENE GLYCOL
     Dosage: 17 MILLIGRAMS (1 EVERY 1 DAYS)
     Route: 048
  302. PROPYLENE GLYCOL [Suspect]
     Active Substance: PROPYLENE GLYCOL
     Indication: Product used for unknown indication
     Dosage: DOSAGE FORM: NOT SPECIFIED
     Route: 065
  303. RIBOFLAVIN [Suspect]
     Active Substance: RIBOFLAVIN
     Indication: Product used for unknown indication
     Dosage: DOSAGE FORM: NOT SPECIFIED
     Route: 065
  304. SIMVASTATIN [Suspect]
     Active Substance: SIMVASTATIN
     Indication: Blood cholesterol increased
     Dosage: AT BED TIME 40 MG, QD
     Route: 048
     Dates: start: 20200527
  305. SIMVASTATIN [Suspect]
     Active Substance: SIMVASTATIN
     Indication: Vitamin supplementation
     Dosage: 40 MG, QD
     Route: 048
  306. SIMVASTATIN [Suspect]
     Active Substance: SIMVASTATIN
     Indication: Product used for unknown indication
     Dosage: UNK
     Route: 065
  307. SIMVASTATIN [Suspect]
     Active Substance: SIMVASTATIN
     Indication: Off label use
     Dosage: UNK
     Route: 048
  308. SODIUM CITRATE [Suspect]
     Active Substance: SODIUM CITRATE
     Indication: Thrombosis
     Dosage: 2.5 ML, PRN, (4GM/100ML SOLUTION UNASSIGNED), DOSAGE FORM - NOT SPECIFIED
     Route: 065
  309. SODIUM CITRATE [Suspect]
     Active Substance: SODIUM CITRATE
     Indication: Anticoagulant therapy
     Dosage: 2.5 ML, QD, DOSAGE FORM - NOT SPECIFIED
     Route: 065
  310. SODIUM CITRATE [Suspect]
     Active Substance: SODIUM CITRATE
     Dosage: 2.5 MG, QD, DOSAGE FORM - NOT SPECIFIED
     Route: 065
  311. SODIUM CITRATE [Suspect]
     Active Substance: SODIUM CITRATE
     Dosage: DOSAGE FORM: NOT SPECIFIED
     Route: 065
  312. SODIUM CITRATE [Suspect]
     Active Substance: SODIUM CITRATE
     Dosage: DOSAGE FORM: SYRUP
     Route: 065
  313. SODIUM FERRIC GLUCONATE COMPLEX [Suspect]
     Active Substance: SODIUM FERRIC GLUCONATE COMPLEX
     Indication: Iron deficiency
     Dosage: 4.64 MG, (1 EVERY 4 WEEKS)
     Route: 042
  314. SODIUM FERRIC GLUCONATE COMPLEX [Suspect]
     Active Substance: SODIUM FERRIC GLUCONATE COMPLEX
     Dosage: 125 MG, (1 EVERY 4 WEEKS)
     Route: 042
  315. SODIUM FERRIC GLUCONATE COMPLEX [Suspect]
     Active Substance: SODIUM FERRIC GLUCONATE COMPLEX
     Dosage: 12.5 MG
     Route: 042
  316. SODIUM FERRIC GLUCONATE COMPLEX [Suspect]
     Active Substance: SODIUM FERRIC GLUCONATE COMPLEX
     Dosage: 17.85 MG, 1 EVERY 1 WEEK
     Route: 042
  317. SODIUM FERRIC GLUCONATE COMPLEX [Suspect]
     Active Substance: SODIUM FERRIC GLUCONATE COMPLEX
     Dosage: 133 ML
     Route: 042
  318. SODIUM FERRIC GLUCONATE COMPLEX [Suspect]
     Active Substance: SODIUM FERRIC GLUCONATE COMPLEX
     Dosage: 1.25 ML, 1 EVERY 1 WEEK
     Route: 042
  319. SODIUM FERRIC GLUCONATE COMPLEX [Suspect]
     Active Substance: SODIUM FERRIC GLUCONATE COMPLEX
     Dosage: UNK
     Route: 042
  320. SODIUM PHOSPHATE [Suspect]
     Active Substance: SODIUM PHOSPHATE
     Indication: Constipation
     Dosage: 133 ML, DOSAGE FORM - SOLUTION
     Route: 054
  321. SUCROSE [Suspect]
     Active Substance: SUCROSE
     Indication: Iron deficiency
     Dosage: 12 MG, 1 EVERY 1 MONTHS, DOSAGE FORM - NOT SPECIFIED
     Route: 042
  322. SUCROSE [Suspect]
     Active Substance: SUCROSE
     Dosage: 125 MG, 1 EVERY 4 WEEKS, DOSAGE FORM: NOT SPECIFIED
     Route: 065
  323. TRESIBA [Suspect]
     Active Substance: INSULIN DEGLUDEC
     Indication: Diabetes mellitus
     Dosage: 1 DOSAGE FORM
     Route: 058
  324. TRESIBA [Suspect]
     Active Substance: INSULIN DEGLUDEC
     Dosage: 1 DF, QD
     Route: 065
  325. DEXTROSE\HEPARIN SODIUM [Suspect]
     Active Substance: DEXTROSE\HEPARIN SODIUM
     Indication: Anticoagulant therapy
     Dosage: 50 MILLILITRES, QD
     Route: 042
  326. DEXTROSE\HEPARIN SODIUM [Suspect]
     Active Substance: DEXTROSE\HEPARIN SODIUM
     Indication: Intentional product misuse
     Dosage: 12 GRAMS
     Route: 065
  327. DEXTROSE\HEPARIN SODIUM [Suspect]
     Active Substance: DEXTROSE\HEPARIN SODIUM
     Dosage: 250 ML, QD, DOSAGE FORM - SOLUTION INTRAVENOUS
     Route: 042
  328. DEXTROSE\HEPARIN SODIUM [Suspect]
     Active Substance: DEXTROSE\HEPARIN SODIUM
     Dosage: 50 MILLILITRES, QD
     Route: 065
  329. DEXTROSE\HEPARIN SODIUM [Suspect]
     Active Substance: DEXTROSE\HEPARIN SODIUM
     Dosage: 50 ML, DOSAGE FORM - SOLUTION INTRAVENOUS
     Route: 042
  330. DEXTROSE\HEPARIN SODIUM [Suspect]
     Active Substance: DEXTROSE\HEPARIN SODIUM
     Dosage: UNK
     Route: 042
  331. DEXTROSE\HEPARIN SODIUM [Suspect]
     Active Substance: DEXTROSE\HEPARIN SODIUM
     Dosage: 250 ML AS REQUIRED
     Route: 042
  332. DEXTROSE\HEPARIN SODIUM [Suspect]
     Active Substance: DEXTROSE\HEPARIN SODIUM
     Dosage: 250 ML
     Route: 017
  333. DEXTROSE\HEPARIN SODIUM [Suspect]
     Active Substance: DEXTROSE\HEPARIN SODIUM
     Dosage: 50 ML
     Route: 017
  334. UMECLIDINIUM BROMIDE [Suspect]
     Active Substance: UMECLIDINIUM BROMIDE
     Indication: Dyspnoea
     Dosage: 1 IU, QD
     Route: 048
  335. UMECLIDINIUM BROMIDE [Suspect]
     Active Substance: UMECLIDINIUM BROMIDE
     Indication: Product used for unknown indication
     Dosage: 1 DF
     Route: 048
  336. UMECLIDINIUM BROMIDE [Suspect]
     Active Substance: UMECLIDINIUM BROMIDE
     Dosage: UNK
     Route: 048
  337. VASOPRESSIN [Suspect]
     Active Substance: VASOPRESSIN
     Indication: Drug therapy
     Dosage: CONTINUOUS TITRATION
     Route: 042
     Dates: start: 20200602
  338. VASOPRESSIN [Suspect]
     Active Substance: VASOPRESSIN
     Indication: Product used for unknown indication
     Dosage: UNK
     Route: 017
  339. VASOPRESSIN [Suspect]
     Active Substance: VASOPRESSIN
     Dosage: 250 ML, QD
     Route: 042
  340. VASOPRESSIN [Suspect]
     Active Substance: VASOPRESSIN
     Dosage: 50 ML, QD
     Route: 042
  341. VITAMIN B6 [Suspect]
     Active Substance: PYRIDOXINE HYDROCHLORIDE
     Indication: Vitamin supplementation
     Dosage: 4 INTERNATIONAL UNITS 4 TIMES EVERY SIX HOURS, DOSAGE FORM - NOT SPECIFIED
     Route: 048
  342. VITAMIN C [Suspect]
     Active Substance: ASCORBIC ACID
     Indication: Product used for unknown indication
     Dosage: DOSAGE FORM; NOT SPECIFIED
     Route: 065
  343. VITAMIN K1 [Suspect]
     Active Substance: PHYTONADIONE
     Indication: Vitamin supplementation
     Dosage: 5 MG, QD, DOSAGE FORM: NOT SPECIFIED
     Route: 042
  344. WARFARIN POTASSIUM [Suspect]
     Active Substance: WARFARIN POTASSIUM
     Indication: Thrombosis
     Dosage: 2 MILLIGRAMS
     Route: 048
  345. XANTOFYL PALMITATE [Suspect]
     Active Substance: XANTOFYL PALMITATE
     Indication: Product used for unknown indication
     Dosage: 12.5 G
     Route: 042
  346. XANTOFYL PALMITATE [Suspect]
     Active Substance: XANTOFYL PALMITATE
     Indication: Nutritional supplementation
     Dosage: 5 MG, QD
     Route: 042
  347. XANTOFYL PALMITATE [Suspect]
     Active Substance: XANTOFYL PALMITATE
     Dosage: UNK
     Route: 042
  348. IPRATROPIUM BROMIDE [Suspect]
     Active Substance: IPRATROPIUM BROMIDE\IPRATROPIUM BROMIDE ANHYDROUS
     Indication: Dyspnoea
     Dosage: DOSE: 4 PUFFS, 4X A DAY
     Dates: start: 20200601
  349. IPRATROPIUM BROMIDE [Suspect]
     Active Substance: IPRATROPIUM BROMIDE\IPRATROPIUM BROMIDE ANHYDROUS
     Indication: Sleep disorder therapy
     Dosage: 4 UNK, QD
  350. IPRATROPIUM BROMIDE [Suspect]
     Active Substance: IPRATROPIUM BROMIDE\IPRATROPIUM BROMIDE ANHYDROUS
     Indication: Intentional product misuse
     Dosage: 4 EVERY 1 DAY, DOSAGE FORM - LIQUID INHALATION
     Route: 065
  351. IPRATROPIUM BROMIDE [Suspect]
     Active Substance: IPRATROPIUM BROMIDE\IPRATROPIUM BROMIDE ANHYDROUS
     Dosage: 1 DF, 1 EVERY 6 HOURS, DOSAGE FORM - LIQUID INHALATION
     Route: 050
  352. IPRATROPIUM BROMIDE [Suspect]
     Active Substance: IPRATROPIUM BROMIDE\IPRATROPIUM BROMIDE ANHYDROUS
     Dosage: 1 DF, 1 EVERY 8 HOURS, DOSAGE FORM - LIQUID INHALATION
     Route: 050
  353. IPRATROPIUM BROMIDE [Suspect]
     Active Substance: IPRATROPIUM BROMIDE\IPRATROPIUM BROMIDE ANHYDROUS
     Dosage: QD, DOSAGE FORM - LIQUID INHALATION
     Route: 050
  354. IPRATROPIUM BROMIDE [Suspect]
     Active Substance: IPRATROPIUM BROMIDE\IPRATROPIUM BROMIDE ANHYDROUS
     Dosage: 4 DF, DOSAGE FORM - LIQUID INHALATION
     Route: 065
  355. FLUTICASONE FUROATE\VILANTEROL TRIFENATATE [Suspect]
     Active Substance: FLUTICASONE FUROATE\VILANTEROL TRIFENATATE
     Indication: Dyspnoea
     Dosage: UNK
  356. FLUTICASONE FUROATE\VILANTEROL TRIFENATATE [Suspect]
     Active Substance: FLUTICASONE FUROATE\VILANTEROL TRIFENATATE
     Indication: Nutritional supplementation
     Dosage: QD
     Route: 065
  357. FLUTICASONE FUROATE\VILANTEROL TRIFENATATE [Suspect]
     Active Substance: FLUTICASONE FUROATE\VILANTEROL TRIFENATATE
     Indication: Blood phosphorus increased
  358. INSULIN DEGLUDEC [Suspect]
     Active Substance: INSULIN DEGLUDEC
     Indication: Diabetes mellitus
     Dosage: DOSE: 22 UNITS, AT BEDTIME, ONCE IN A DAY
     Route: 058
     Dates: start: 20200527
  359. INSULIN DEGLUDEC [Suspect]
     Active Substance: INSULIN DEGLUDEC
     Dosage: DOSAGE FORM: SOLUTION FOR INJECTION
     Route: 058
  360. INSULIN DEGLUDEC [Suspect]
     Active Substance: INSULIN DEGLUDEC
     Dosage: UNK
     Route: 065
  361. UMECLIDINIUM BROMIDE\VILANTEROL TRIFENATATE [Suspect]
     Active Substance: UMECLIDINIUM BROMIDE\VILANTEROL TRIFENATATE
     Indication: Dyspnoea
     Dosage: 1 IU, MORNING, ONCE IN A DAY
     Route: 048
     Dates: start: 20200527
  362. UMECLIDINIUM BROMIDE\VILANTEROL TRIFENATATE [Suspect]
     Active Substance: UMECLIDINIUM BROMIDE\VILANTEROL TRIFENATATE
     Indication: Nutritional supplementation
  363. UMECLIDINIUM BROMIDE\VILANTEROL TRIFENATATE [Suspect]
     Active Substance: UMECLIDINIUM BROMIDE\VILANTEROL TRIFENATATE
     Indication: Product used for unknown indication
  364. UMECLIDINIUM BROMIDE\VILANTEROL TRIFENATATE [Suspect]
     Active Substance: UMECLIDINIUM BROMIDE\VILANTEROL TRIFENATATE
     Indication: Blood phosphorus increased
  365. ALBUTEROL SULFATE [Suspect]
     Active Substance: ALBUTEROL SULFATE
     Indication: Chronic obstructive pulmonary disease
     Dosage: 4 DOSAGE FORMS (1 EVERY 1 DAYS)
     Dates: start: 20200601
  366. ALBUTEROL SULFATE [Suspect]
     Active Substance: ALBUTEROL SULFATE
     Dosage: 1 DOSAGE FORM (1 EVERY 6 HOURS)
  367. ALBUTEROL SULFATE [Suspect]
     Active Substance: ALBUTEROL SULFATE
     Dosage: 1 DOSAGE FORM
  368. WARFARIN [Suspect]
     Active Substance: WARFARIN
     Indication: Thrombosis
     Dosage: AT BED TIME ON ALTERNATE DAYS, 2 MG, PRN
     Route: 048
     Dates: start: 20200527
  369. WARFARIN [Suspect]
     Active Substance: WARFARIN
     Indication: Intentional product misuse
     Dosage: 2 G, QD
     Route: 048
  370. WARFARIN [Suspect]
     Active Substance: WARFARIN
     Indication: Off label use
     Dosage: 2 MILLIGRAM, QD
     Route: 065
  371. WARFARIN [Suspect]
     Active Substance: WARFARIN
     Dosage: 2 ML, QD
     Route: 048
  372. WARFARIN [Suspect]
     Active Substance: WARFARIN
     Dosage: UNK
     Route: 065
  373. SODIUM PICOSULFATE [Suspect]
     Active Substance: SODIUM PICOSULFATE
     Indication: Constipation
     Dosage: 10 MILLIGRAMS, QD, DOSAGE FORM - NOT SPECIFIED
     Route: 054
     Dates: start: 20200601
  374. SODIUM PICOSULFATE [Suspect]
     Active Substance: SODIUM PICOSULFATE
     Indication: Ventricular fibrillation
     Dosage: 10 MG 1 EVERY 1 DAYS, DOSAGE FORM: SUPPOSITORY
     Route: 054
  375. SODIUM PICOSULFATE [Suspect]
     Active Substance: SODIUM PICOSULFATE
     Indication: Drug therapy
  376. SODIUM PICOSULFATE [Suspect]
     Active Substance: SODIUM PICOSULFATE
     Indication: Product used for unknown indication
  377. PREVACID [Suspect]
     Active Substance: LANSOPRAZOLE
     Indication: Antacid therapy
     Dosage: 30 MG, QD (CAPSULE, DELAYED RELEASE)
     Route: 048
     Dates: start: 20200527
  378. PREVACID [Suspect]
     Active Substance: LANSOPRAZOLE
     Indication: Intentional product misuse
     Dosage: 30 MG, QD
     Route: 048
  379. PREVACID [Suspect]
     Active Substance: LANSOPRAZOLE
     Dosage: UNK
     Route: 048
  380. INSULIN ASPART [Suspect]
     Active Substance: INSULIN ASPART
     Indication: Diabetes mellitus
     Dosage: DOSE : 6 UNITS, BEFORE SUPPER, PRN
     Route: 058
     Dates: start: 20200527
  381. INSULIN ASPART [Suspect]
     Active Substance: INSULIN ASPART
     Dosage: UNK
     Route: 058
  382. INSULIN ASPART [Suspect]
     Active Substance: INSULIN ASPART
     Dosage: UNK
     Route: 065
  383. INSULIN ASPART [Suspect]
     Active Substance: INSULIN ASPART
     Dosage: UNK
     Route: 065
  384. INSULIN ASPART [Suspect]
     Active Substance: INSULIN ASPART
     Dosage: UNK
     Route: 065
  385. INSULIN ASPART [Suspect]
     Active Substance: INSULIN ASPART
     Dosage: UNK
     Route: 065
  386. INSULIN ASPART [Suspect]
     Active Substance: INSULIN ASPART
     Dosage: UNK
     Route: 065
  387. INSULIN ASPART [Suspect]
     Active Substance: INSULIN ASPART
     Dosage: UNK
     Route: 065
  388. INSULIN ASPART [Suspect]
     Active Substance: INSULIN ASPART
     Dosage: UNK
     Route: 065
  389. INSULIN ASPART [Suspect]
     Active Substance: INSULIN ASPART
     Dosage: UNK
     Route: 065
  390. INSULIN ASPART [Suspect]
     Active Substance: INSULIN ASPART
     Dosage: UNK
     Route: 065
  391. INSULIN ASPART [Suspect]
     Active Substance: INSULIN ASPART
     Dosage: UNK
     Route: 048
  392. INSULIN ASPART [Suspect]
     Active Substance: INSULIN ASPART
     Dosage: UNK
     Route: 058
  393. INSULIN ASPART [Suspect]
     Active Substance: INSULIN ASPART
     Dosage: DOSAGE FORM: SOLUTION FOR INJECTION
     Route: 065
  394. INSULIN ASPART [Suspect]
     Active Substance: INSULIN ASPART
     Dosage: DOSAGE FORM: SOLUTION FOR INJECTION
     Route: 058
  395. INSULIN ASPART [Suspect]
     Active Substance: INSULIN ASPART
     Dosage: DOSAGE FORM: SOLUTION FOR INJECTION
     Route: 058
  396. INSULIN ASPART [Suspect]
     Active Substance: INSULIN ASPART
     Dosage: UNK
     Route: 065
  397. SODIUM PICOSULFATE [Suspect]
     Active Substance: SODIUM PICOSULFATE
     Indication: Constipation
     Dosage: 10 MILLIGRAM, PRN, DOSAGE FORM - NOT SPECIFIED
     Route: 054
  398. SODIUM PICOSULFATE [Suspect]
     Active Substance: SODIUM PICOSULFATE
     Indication: Analgesic therapy
     Dosage: 12.5 GM, 1 EVERY 1 MONTHS, DOSAGE FORM - NOT SPECIFIED
     Route: 054
  399. SODIUM PICOSULFATE [Suspect]
     Active Substance: SODIUM PICOSULFATE
     Indication: Product used for unknown indication
     Dosage: 10 MG, QD, DOSAGE FORM - NOT SPECIFIED
     Route: 054
  400. SODIUM PICOSULFATE [Suspect]
     Active Substance: SODIUM PICOSULFATE
     Dosage: DOSAGE FORM: NOT SPECIFIED
     Route: 054
  401. SODIUM PHOSPHATE, MONOBASIC [Suspect]
     Active Substance: SODIUM PHOSPHATE, MONOBASIC
     Indication: Constipation
     Dosage: 133 ML, PRN
     Route: 054
  402. SODIUM PHOSPHATE, MONOBASIC [Suspect]
     Active Substance: SODIUM PHOSPHATE, MONOBASIC
     Dosage: UNK
     Route: 065
  403. SODIUM PHOSPHATE, MONOBASIC [Suspect]
     Active Substance: SODIUM PHOSPHATE, MONOBASIC
     Dosage: UNK
     Route: 054
  404. DALTEPARIN SODIUM [Suspect]
     Active Substance: DALTEPARIN SODIUM
     Indication: Pulmonary embolism
     Dosage: UNK
     Route: 065
     Dates: start: 20200526
  405. DALTEPARIN SODIUM [Suspect]
     Active Substance: DALTEPARIN SODIUM
     Indication: Product used for unknown indication
     Dosage: UNK
     Route: 065
     Dates: start: 20200526
  406. DALTEPARIN SODIUM [Suspect]
     Active Substance: DALTEPARIN SODIUM
     Dosage: 2.5 ML
     Route: 065
     Dates: start: 20200526
  407. DALTEPARIN SODIUM [Suspect]
     Active Substance: DALTEPARIN SODIUM
     Dosage: UNK
     Route: 048
  408. DALTEPARIN SODIUM [Suspect]
     Active Substance: DALTEPARIN SODIUM
     Dosage: UNK
     Route: 065
  409. DALTEPARIN SODIUM [Suspect]
     Active Substance: DALTEPARIN SODIUM
     Dosage: UNK
     Route: 065
  410. DALTEPARIN SODIUM [Suspect]
     Active Substance: DALTEPARIN SODIUM
     Dosage: UNK
     Route: 065
  411. DALTEPARIN SODIUM [Suspect]
     Active Substance: DALTEPARIN SODIUM
     Dosage: UNK
     Route: 065
  412. DALTEPARIN SODIUM [Suspect]
     Active Substance: DALTEPARIN SODIUM
     Dosage: UNK
     Route: 065
  413. DALTEPARIN SODIUM [Suspect]
     Active Substance: DALTEPARIN SODIUM
     Dosage: UNK
     Route: 065
  414. DALTEPARIN SODIUM [Suspect]
     Active Substance: DALTEPARIN SODIUM
     Dosage: UNK
     Route: 065
  415. DALTEPARIN SODIUM [Suspect]
     Active Substance: DALTEPARIN SODIUM
     Dosage: 12.5 MG
     Route: 042
  416. DALTEPARIN SODIUM [Suspect]
     Active Substance: DALTEPARIN SODIUM
     Dosage: 2.5 ML
     Route: 065
  417. DALTEPARIN SODIUM [Suspect]
     Active Substance: DALTEPARIN SODIUM
     Dosage: 2.5 ML
     Route: 065
  418. DALTEPARIN SODIUM [Suspect]
     Active Substance: DALTEPARIN SODIUM
     Dosage: UNK
     Route: 048
  419. PYRIDOXINE HYDROCHLORIDE [Suspect]
     Active Substance: PYRIDOXINE HYDROCHLORIDE
     Indication: Vitamin supplementation
     Dosage: UNK, QID
     Route: 048
  420. PYRIDOXINE HYDROCHLORIDE [Suspect]
     Active Substance: PYRIDOXINE HYDROCHLORIDE
     Dosage: UNK
     Route: 065
  421. PYRIDOXINE HYDROCHLORIDE [Suspect]
     Active Substance: PYRIDOXINE HYDROCHLORIDE
     Dosage: UNK
     Route: 048
  422. DIETARY SUPPLEMENT [Suspect]
     Active Substance: DIETARY SUPPLEMENT
     Indication: Vitamin supplementation
     Dosage: 5 MG, QD, VIA INTRAVENOUS (NOT OTHERWISE SPECIFIED), PRN
     Route: 042
  423. DIETARY SUPPLEMENT [Suspect]
     Active Substance: DIETARY SUPPLEMENT
     Indication: Intentional product misuse
     Dosage: 17 MG, QD
     Route: 042
  424. PYRIDOXINE HYDROCHLORIDE [Suspect]
     Active Substance: PYRIDOXINE HYDROCHLORIDE
     Indication: Vitamin supplementation
     Dosage: DOSE: 1 TAB MORNING. QD
     Route: 048
     Dates: start: 20200527
  425. SODIUM PHOSPHATE, MONOBASIC, ANHYDROUS [Suspect]
     Active Substance: SODIUM PHOSPHATE, MONOBASIC, ANHYDROUS
     Indication: Constipation
     Dosage: AS DIRECTED 133 ML, PRN
     Route: 054
     Dates: start: 20200601
  426. SODIUM PHOSPHATE, MONOBASIC, ANHYDROUS [Suspect]
     Active Substance: SODIUM PHOSPHATE, MONOBASIC, ANHYDROUS
     Dosage: 133 ML, PRN
     Route: 054
  427. FERRLECIT [Suspect]
     Active Substance: SODIUM FERRIC GLUCONATE COMPLEX
     Indication: Iron deficiency
     Dosage: 1.25 G, DIALYSIS 4 WEEKS
     Route: 042
     Dates: start: 20200527
  428. FERRLECIT [Suspect]
     Active Substance: SODIUM FERRIC GLUCONATE COMPLEX
     Dosage: 4.64 MG, Q4W
     Route: 042
  429. FURAZOLIDONE [Suspect]
     Active Substance: FURAZOLIDONE
     Indication: Product used for unknown indication
     Dosage: 12.5 MILLIGRAM, QD, DOSAGE FORM - NOT SPECIFIED
     Route: 042
  430. OSELTAMIVIR PHOSPHATE [Suspect]
     Active Substance: OSELTAMIVIR PHOSPHATE
     Indication: Product used for unknown indication
     Dosage: 133 MILLILITER, PRN
     Route: 054
  431. HERBALS [Suspect]
     Active Substance: HERBALS
     Indication: Nutritional supplementation
     Dosage: 12.5 G, PRN
     Route: 042
  432. HERBALS [Suspect]
     Active Substance: HERBALS
     Indication: Product used for unknown indication
     Dosage: DOSAGE FORM - LIQUID ORAL
     Route: 065
  433. FENOTEROL [Suspect]
     Active Substance: FENOTEROL
     Indication: Dyspnoea
     Dosage: 1 {DF}, TID
     Route: 050
  434. BETAMETHASONE DIPROPIONATE\CLIOQUINOL [Suspect]
     Active Substance: BETAMETHASONE DIPROPIONATE\CLIOQUINOL
     Indication: Swelling
     Dosage: QD, DOSAGE FORM - NOT SPECIFIED
     Route: 061
  435. HERBALS\PAULLINIA CUPANA SEED [Suspect]
     Active Substance: HERBALS\PAULLINIA CUPANA SEED
     Indication: Nutritional supplementation
     Dosage: 12.5 MG
     Route: 042
  436. HERBALS\PAULLINIA CUPANA SEED [Suspect]
     Active Substance: HERBALS\PAULLINIA CUPANA SEED
     Dosage: DOSAGE FORM: NOT SPECIFIED
     Route: 042
  437. .ALPHA.-TOCOPHEROL, DL- [Suspect]
     Active Substance: .ALPHA.-TOCOPHEROL, DL-
     Indication: Nutritional supplementation
     Dosage: 12.5 GRAM, PRN
     Route: 042
  438. .ALPHA.-TOCOPHEROL, DL- [Suspect]
     Active Substance: .ALPHA.-TOCOPHEROL, DL-
     Indication: Product used for unknown indication
  439. MAALOX ANTACID [Suspect]
     Active Substance: ALUMINUM HYDROXIDE\DIMETHICONE\MAGNESIUM HYDROXIDE
     Indication: Constipation
     Dosage: DOSAGE FORM - NOT SPECIFIED
     Route: 054
  440. LUTEIN [Suspect]
     Active Substance: LUTEIN
     Indication: Nutritional supplementation
     Dosage: 12.5 GRAM, AS NEEDED
     Route: 042
  441. NOREPINEPHRINE BITARTRATE [Suspect]
     Active Substance: NOREPINEPHRINE BITARTRATE
     Indication: Stress
     Dosage: NORADRENALINE TARTRATE RENAUDI, 1 MG.QD
     Route: 048
  442. METAMIZOLE SODIUM [Suspect]
     Active Substance: METAMIZOLE SODIUM
     Indication: Vitamin supplementation
     Dosage: 5 MILLIGRAM, QD
     Route: 042
  443. METAMIZOLE SODIUM [Suspect]
     Active Substance: METAMIZOLE SODIUM
     Indication: Intentional product misuse
  444. POTASSIUM CHLORATE [Suspect]
     Active Substance: POTASSIUM CHLORATE
     Indication: Product used for unknown indication
     Dosage: 17 MG, QD
     Route: 048
  445. POTASSIUM CHLORATE [Suspect]
     Active Substance: POTASSIUM CHLORATE
     Dosage: UNK
     Route: 065
  446. ISOPROPYL MYRISTATE [Suspect]
     Active Substance: ISOPROPYL MYRISTATE
     Indication: Constipation
     Dosage: 17 G, QD
     Route: 065
  447. ISOPROPYL MYRISTATE [Suspect]
     Active Substance: ISOPROPYL MYRISTATE
     Indication: Product used for unknown indication
  448. ISOPROPYL MYRISTATE [Suspect]
     Active Substance: ISOPROPYL MYRISTATE
     Indication: Intentional product misuse
  449. ISOPROPYL MYRISTATE [Suspect]
     Active Substance: ISOPROPYL MYRISTATE
     Indication: Off label use
  450. PANTHENOL [Suspect]
     Active Substance: PANTHENOL
     Indication: Constipation
     Dosage: 17 G, QD
     Route: 048
  451. PANTHENOL [Suspect]
     Active Substance: PANTHENOL
     Indication: Product used for unknown indication
  452. PANTHENOL [Suspect]
     Active Substance: PANTHENOL
     Indication: Off label use
  453. PANTHENOL [Suspect]
     Active Substance: PANTHENOL
     Indication: Intentional product misuse
  454. PHENOXYETHANOL [Suspect]
     Active Substance: PHENOXYETHANOL
     Indication: Constipation
     Dosage: 17 G, QD
     Route: 048
  455. PHENOXYETHANOL [Suspect]
     Active Substance: PHENOXYETHANOL
     Indication: Off label use
     Dosage: UNK
     Route: 065
  456. PHENOXYETHANOL [Suspect]
     Active Substance: PHENOXYETHANOL
     Indication: Product used for unknown indication
     Dosage: 17 G, QD
     Route: 065
  457. PHENOXYETHANOL [Suspect]
     Active Substance: PHENOXYETHANOL
     Indication: Intentional product misuse
  458. VITAMIN A PALMITATE [Suspect]
     Active Substance: VITAMIN A PALMITATE
     Indication: Constipation
     Dosage: 17 G, QD
     Route: 048
  459. VITAMIN A PALMITATE [Suspect]
     Active Substance: VITAMIN A PALMITATE
     Indication: Product used for unknown indication
  460. VITAMIN A PALMITATE [Suspect]
     Active Substance: VITAMIN A PALMITATE
     Indication: Intentional product misuse
  461. VITAMIN A PALMITATE [Suspect]
     Active Substance: VITAMIN A PALMITATE
     Indication: Off label use
  462. STEARIC ACID [Suspect]
     Active Substance: STEARIC ACID
     Indication: Constipation
     Dosage: 17 G, QD
     Route: 048
  463. STEARIC ACID [Suspect]
     Active Substance: STEARIC ACID
     Indication: Product used for unknown indication
     Dosage: UNK
     Route: 065
  464. STEARIC ACID [Suspect]
     Active Substance: STEARIC ACID
     Indication: Off label use
  465. STEARYL ALCOHOL [Suspect]
     Active Substance: STEARYL ALCOHOL
     Indication: Constipation
     Dosage: 17 G, QD
     Route: 048
  466. STEARYL ALCOHOL [Suspect]
     Active Substance: STEARYL ALCOHOL
     Indication: Product used for unknown indication
     Dosage: UNK
     Route: 065
  467. STEARYL ALCOHOL [Suspect]
     Active Substance: STEARYL ALCOHOL
     Indication: Off label use
  468. STEARYL ALCOHOL [Suspect]
     Active Substance: STEARYL ALCOHOL
     Indication: Intentional product misuse
  469. .ALPHA.-TOCOPHEROL SUCCINATE, D- [Suspect]
     Active Substance: .ALPHA.-TOCOPHEROL SUCCINATE, D-
     Indication: Constipation
     Dosage: 17 G, QD
     Route: 048
  470. .ALPHA.-TOCOPHEROL SUCCINATE, D- [Suspect]
     Active Substance: .ALPHA.-TOCOPHEROL SUCCINATE, D-
     Indication: Intentional product misuse
  471. .ALPHA.-TOCOPHEROL SUCCINATE, D- [Suspect]
     Active Substance: .ALPHA.-TOCOPHEROL SUCCINATE, D-
     Indication: Off label use
  472. .ALPHA.-TOCOPHEROL SUCCINATE, D- [Suspect]
     Active Substance: .ALPHA.-TOCOPHEROL SUCCINATE, D-
     Indication: Product used for unknown indication
  473. SAFFLOWER [Suspect]
     Active Substance: SAFFLOWER
     Indication: Constipation
     Dosage: 17 G, QD
     Route: 048
  474. SAFFLOWER [Suspect]
     Active Substance: SAFFLOWER
     Indication: Off label use
     Dosage: 17 G, QD
     Route: 065
  475. SAFFLOWER [Suspect]
     Active Substance: SAFFLOWER
     Indication: Product used for unknown indication
  476. SAFFLOWER [Suspect]
     Active Substance: SAFFLOWER
     Indication: Intentional product misuse
  477. GLYCERYL MONOSTEARATE [Suspect]
     Active Substance: GLYCERYL MONOSTEARATE
     Indication: Constipation
     Dosage: 17 G, QD
     Route: 048
  478. GLYCERYL MONOSTEARATE [Suspect]
     Active Substance: GLYCERYL MONOSTEARATE
     Indication: Intentional product misuse
     Dosage: UNK
     Route: 065
  479. GLYCERYL MONOSTEARATE [Suspect]
     Active Substance: GLYCERYL MONOSTEARATE
     Indication: Product used for unknown indication
  480. GLYCERYL MONOSTEARATE [Suspect]
     Active Substance: GLYCERYL MONOSTEARATE
     Indication: Off label use
  481. CITRIC ACID [Suspect]
     Active Substance: CITRIC ACID MONOHYDRATE
     Indication: Nutritional supplementation
     Dosage: 12.5 G,PRN
     Route: 065
  482. MALTOSE [Suspect]
     Active Substance: MALTOSE
     Indication: Nutritional supplementation
     Dosage: 12.5 G, PRN
     Route: 065
  483. MALTOSE [Suspect]
     Active Substance: MALTOSE
     Dosage: UNK
     Route: 065
  484. SODIUM BICARBONATE [Suspect]
     Active Substance: SODIUM BICARBONATE
     Indication: Nutritional supplementation
     Dosage: 12.5 G, PRN
     Route: 065
  485. SODIUM BICARBONATE [Suspect]
     Active Substance: SODIUM BICARBONATE
     Dosage: DOSAGE FORM : NOT SPECIFIED
     Route: 065
  486. FOSRENOL [Suspect]
     Active Substance: LANTHANUM CARBONATE
     Indication: Blood phosphorus increased
     Dosage: 500 MG, PRN
     Route: 065
  487. FOSRENOL [Suspect]
     Active Substance: LANTHANUM CARBONATE
     Indication: Hyperphosphataemia
     Dosage: 500 MG, QD
     Route: 048
  488. CHLORAMPHENICOL\HYDROCORTISONE ACETATE\METRONIDAZOLE\NATAMYCIN [Suspect]
     Active Substance: CHLORAMPHENICOL\HYDROCORTISONE ACETATE\METRONIDAZOLE\NATAMYCIN
     Indication: Bacterial infection
     Dosage: 500 MILLIGRAMS, ONCE EVERY 8 HOURS, DOSAGE FORM - NOT SPECIFIED
     Route: 065
  489. CHLORAMPHENICOL\HYDROCORTISONE ACETATE\METRONIDAZOLE\NATAMYCIN [Suspect]
     Active Substance: CHLORAMPHENICOL\HYDROCORTISONE ACETATE\METRONIDAZOLE\NATAMYCIN
     Indication: Anaemia
     Dosage: 1500 MILLIGRAMS, DOSAGE FORM - NOT SPECIFIED
     Route: 065
  490. SOYBEAN OIL [Suspect]
     Active Substance: SOYBEAN OIL
     Indication: Constipation
     Dosage: 17 G, QD
     Route: 048
  491. SOYBEAN OIL [Suspect]
     Active Substance: SOYBEAN OIL
     Indication: Product used for unknown indication
  492. SOYBEAN OIL [Suspect]
     Active Substance: SOYBEAN OIL
     Indication: Off label use
  493. SOYBEAN OIL [Suspect]
     Active Substance: SOYBEAN OIL
     Indication: Intentional product misuse
  494. BISMUTH HYDROXIDE [Suspect]
     Active Substance: BISMUTH HYDROXIDE
     Indication: Constipation
     Dosage: 133 ML, AS NECESSARY
     Route: 054
  495. BUFEXAMAC\LIDOCAINE HYDROCHLORIDE [Suspect]
     Active Substance: BUFEXAMAC\LIDOCAINE HYDROCHLORIDE
     Indication: Constipation
     Dosage: 133 ML, AS NECESSARY
     Route: 054
  496. TITANIUM [Suspect]
     Active Substance: TITANIUM
     Indication: Constipation
     Dosage: 133 ML, AS NECESSARY
     Route: 065
  497. TITANIUM [Suspect]
     Active Substance: TITANIUM
     Dosage: UNK
     Route: 065
  498. HERBALS [Suspect]
     Active Substance: HERBALS
     Indication: Nutritional supplementation
     Dosage: 12.5 MG
     Route: 065
  499. ZOCOR [Suspect]
     Active Substance: SIMVASTATIN
     Indication: Blood cholesterol increased
     Dosage: 40 MG, QD
     Route: 048
  500. CALCIUM\VITAMIN D [Suspect]
     Active Substance: CALCIUM\VITAMIN D
     Indication: Product used for unknown indication
     Dosage: DOSAGE FORM - NOT SPECIFIED
     Route: 065
  501. TRELEGY ELLIPTA [Suspect]
     Active Substance: FLUTICASONE FUROATE\UMECLIDINIUM BROMIDE\VILANTEROL TRIFENATATE
     Indication: Product used for unknown indication
     Route: 065
  502. TRELEGY ELLIPTA [Suspect]
     Active Substance: FLUTICASONE FUROATE\UMECLIDINIUM BROMIDE\VILANTEROL TRIFENATATE
     Indication: Off label use
  503. TRELEGY ELLIPTA [Suspect]
     Active Substance: FLUTICASONE FUROATE\UMECLIDINIUM BROMIDE\VILANTEROL TRIFENATATE
     Indication: Intentional product misuse
  504. SODIUM PHOSPHATE, MONOBASIC [Suspect]
     Active Substance: SODIUM PHOSPHATE, MONOBASIC
     Indication: Constipation
     Dosage: 133 ML, PRN, AS NECESSARY
     Route: 065
  505. MEDIUM-CHAIN TRIGLYCERIDES [Suspect]
     Active Substance: MEDIUM-CHAIN TRIGLYCERIDES
     Indication: Constipation
     Dosage: 17 G, QD
     Route: 048
  506. MEDIUM-CHAIN TRIGLYCERIDES [Suspect]
     Active Substance: MEDIUM-CHAIN TRIGLYCERIDES
     Indication: Off label use
     Dosage: UNK
     Route: 065
  507. MEDIUM-CHAIN TRIGLYCERIDES [Suspect]
     Active Substance: MEDIUM-CHAIN TRIGLYCERIDES
     Indication: Intentional product misuse
  508. MEDIUM-CHAIN TRIGLYCERIDES [Suspect]
     Active Substance: MEDIUM-CHAIN TRIGLYCERIDES
     Indication: Product used for unknown indication
  509. HERBALS [Suspect]
     Active Substance: HERBALS
     Indication: Constipation
     Dosage: 17 G, QD
     Route: 065
  510. HERBALS [Suspect]
     Active Substance: HERBALS
     Dosage: UNK
     Route: 065
  511. VILANTEROL TRIFENATATE [Suspect]
     Active Substance: VILANTEROL TRIFENATATE
     Indication: Product used for unknown indication
     Dosage: 1 IU, QD
     Route: 048
  512. VILANTEROL TRIFENATATE [Suspect]
     Active Substance: VILANTEROL TRIFENATATE
     Indication: Dyspnoea
     Dosage: UNK
     Route: 065
  513. CHLORPHENIRAMINE [Suspect]
     Active Substance: CHLORPHENIRAMINE
     Indication: Thrombosis
     Dosage: 2.5 ML, AS NEEDED
     Route: 048
  514. CHLORPHENIRAMINE [Suspect]
     Active Substance: CHLORPHENIRAMINE
     Dosage: 2.5 ML, AS NEEDED
     Route: 048
  515. CHLORPHENIRAMINE [Suspect]
     Active Substance: CHLORPHENIRAMINE
     Dosage: DOSAGE FORM: NOT SPECIFIED
     Route: 065
  516. OTRIVIN [Suspect]
     Active Substance: XYLOMETAZOLINE
     Indication: Dyspnoea
  517. OTRIVIN [Suspect]
     Active Substance: XYLOMETAZOLINE
     Dosage: DOSAGE FORM: NOT SPECIFIED
     Route: 065
  518. FIASP [Suspect]
     Active Substance: INSULIN ASPART
     Indication: Diabetes mellitus
     Dosage: DOSAGE FORRM - NOT SPECIFIED
     Route: 058
  519. HYDROMORPHONE HYDROCHLORIDE [Suspect]
     Active Substance: HYDROMORPHONE HYDROCHLORIDE
     Indication: Analgesic therapy
     Dosage: 1 MG, Q4H, DOSAGE FORM - SOLUTION INTRAMUSCULAR
     Route: 058
     Dates: start: 20200529
  520. HYDROMORPHONE HYDROCHLORIDE [Suspect]
     Active Substance: HYDROMORPHONE HYDROCHLORIDE
     Indication: Off label use
     Dosage: 6 MILLIGRAM,4X A DAY, DOSAGE FORM - SOLUTION INTRAMUSCULAR
     Route: 058
  521. HYDROMORPHONE HYDROCHLORIDE [Suspect]
     Active Substance: HYDROMORPHONE HYDROCHLORIDE
     Indication: Product used for unknown indication
     Dosage: 1 MG, QD
     Route: 058
  522. HYDROMORPHONE HYDROCHLORIDE [Suspect]
     Active Substance: HYDROMORPHONE HYDROCHLORIDE
     Dosage: 96 MG, QD
     Route: 058
  523. HYDROMORPHONE HYDROCHLORIDE [Suspect]
     Active Substance: HYDROMORPHONE HYDROCHLORIDE
     Dosage: 17 ML (1 EVERY 1 DAYS)
     Route: 065
  524. HYDROMORPHONE HYDROCHLORIDE [Suspect]
     Active Substance: HYDROMORPHONE HYDROCHLORIDE
     Dosage: 1 MILLIGRAM
     Route: 058
  525. HYDROMORPHONE HYDROCHLORIDE [Suspect]
     Active Substance: HYDROMORPHONE HYDROCHLORIDE
     Dosage: 1 MG (1 EVERY 6 DAYS)
     Route: 058
  526. HYDROMORPHONE HYDROCHLORIDE [Suspect]
     Active Substance: HYDROMORPHONE HYDROCHLORIDE
     Dosage: 24 MG, (1 EVERY 4 HOURS), DOSAGE FORM - SOLUTION INTRAMUSCULARUNK
     Route: 058
  527. HYDROMORPHONE HYDROCHLORIDE [Suspect]
     Active Substance: HYDROMORPHONE HYDROCHLORIDE
     Dosage: 24 MG, QD, DOSAGE FORM - SOLUTION INTRAMUSCULAR
     Route: 058
  528. HYDROMORPHONE HYDROCHLORIDE [Suspect]
     Active Substance: HYDROMORPHONE HYDROCHLORIDE
     Dosage: 6 MG(1 EVERY 6 HOURS), DOSAGE FORM - SOLUTION INTRAMUSCULARUNK
     Route: 058
  529. HYDROMORPHONE HYDROCHLORIDE [Suspect]
     Active Substance: HYDROMORPHONE HYDROCHLORIDE
     Dosage: 1 MG (1 EVERY 4 HOURS), DOSAGE FORM - SOLUTION INTRAMUSCULAR
     Route: 058
  530. HYDROMORPHONE HYDROCHLORIDE [Suspect]
     Active Substance: HYDROMORPHONE HYDROCHLORIDE
     Dosage: 4 MG, Q4H, DOSAGE FORM - SOLUTION INTRAMUSCULAR
     Route: 065
  531. HYDROMORPHONE HYDROCHLORIDE [Suspect]
     Active Substance: HYDROMORPHONE HYDROCHLORIDE
     Dosage: 6 MG, Q4H, DOSAGE FORM - SOLUTION INTRAMUSCULAR
     Route: 058
  532. HYDROMORPHONE HYDROCHLORIDE [Suspect]
     Active Substance: HYDROMORPHONE HYDROCHLORIDE
     Dosage: UNK
     Route: 065
  533. HYDROMORPHONE HYDROCHLORIDE [Suspect]
     Active Substance: HYDROMORPHONE HYDROCHLORIDE
     Dosage: 17 MG 1 EVERY 1 DAY
     Route: 065
  534. HYDROMORPHONE HYDROCHLORIDE [Suspect]
     Active Substance: HYDROMORPHONE HYDROCHLORIDE
     Dosage: 6 MG
     Route: 058
  535. WARFARIN SODIUM [Suspect]
     Active Substance: WARFARIN SODIUM
     Indication: Thrombosis
     Dosage: 2 MILLIGRAMS
     Route: 048
  536. WARFARIN SODIUM [Suspect]
     Active Substance: WARFARIN SODIUM
     Dosage: 2 GRAMS (1 EVERY 1 DAYS)
     Route: 048
  537. CARBOHYDRATES\ELECTROLYTES NOS\MINERALS\PROTEIN\VITAMINS [Suspect]
     Active Substance: CARBOHYDRATES\ELECTROLYTES NOS\MINERALS\PROTEIN\VITAMINS
     Indication: Vitamin supplementation
     Dosage: 5 MILLIGRAMS
     Route: 042
  538. CARBOHYDRATES\ELECTROLYTES NOS\MINERALS\PROTEIN\VITAMINS [Suspect]
     Active Substance: CARBOHYDRATES\ELECTROLYTES NOS\MINERALS\PROTEIN\VITAMINS
     Dosage: 5 MILLIGRAMS, QD
     Route: 065
  539. BISMUTH SUBNITRATE\MAGNESIUM OXIDE\MAGNESIUM TRISILICATE\SODIUM PHOSPH [Suspect]
     Active Substance: BISMUTH SUBNITRATE\MAGNESIUM OXIDE\MAGNESIUM TRISILICATE\SODIUM PHOSPHATE, MONOBASIC, ANHYDROUS
     Indication: Constipation
     Dosage: 133 ML AS REQUIRED
     Route: 054
  540. BISMUTH SUBNITRATE\MAGNESIUM OXIDE\MAGNESIUM TRISILICATE\SODIUM PHOSPH [Suspect]
     Active Substance: BISMUTH SUBNITRATE\MAGNESIUM OXIDE\MAGNESIUM TRISILICATE\SODIUM PHOSPHATE, MONOBASIC, ANHYDROUS
     Indication: Product used for unknown indication
     Dosage: 133 ML AS REQUIRED EVERY ONE DAY
     Route: 054
  541. BISMUTH SUBNITRATE\MAGNESIUM OXIDE\MAGNESIUM TRISILICATE\SODIUM PHOSPH [Suspect]
     Active Substance: BISMUTH SUBNITRATE\MAGNESIUM OXIDE\MAGNESIUM TRISILICATE\SODIUM PHOSPHATE, MONOBASIC, ANHYDROUS
     Dosage: UNK
     Route: 065
  542. BISMUTH SUBNITRATE [Suspect]
     Active Substance: BISMUTH SUBNITRATE
     Indication: Constipation
     Dosage: 133 ML AS REQUIRED
     Route: 065
  543. PANAX GINSENG WHOLE [Suspect]
     Active Substance: PANAX GINSENG WHOLE
     Indication: Nutritional supplementation
     Dosage: 12 MG, AS REQUIRED, DOSAGE FORM - NOT SPECIFIED
     Route: 065
  544. LYPRESSIN [Suspect]
     Active Substance: LYPRESSIN
     Indication: Drug therapy
     Route: 042
  545. MAGNESIUM OXIDE [Suspect]
     Active Substance: MAGNESIUM OXIDE
     Indication: Constipation
     Dosage: 133 ML, DOSAGE FORM: NOT SPECIFIED, FREQUENCY: AS REQUIRED
     Route: 065
  546. MAGNESIUM OXIDE [Suspect]
     Active Substance: MAGNESIUM OXIDE
     Indication: Product used for unknown indication
     Dosage: 133 ML, DOSAGE FORM: NOT SPECIFIED, FREQUENCY: AS REQUIRED
     Route: 054
  547. DIPROSONE [Suspect]
     Active Substance: BETAMETHASONE DIPROPIONATE
     Route: 065

REACTIONS (60)
  - Death [Fatal]
  - Ventricular fibrillation [Fatal]
  - Constipation [Fatal]
  - Ascites [Fatal]
  - Abdominal distension [Fatal]
  - Sepsis [Fatal]
  - Appendicolith [Fatal]
  - General physical health deterioration [Fatal]
  - Multiple organ dysfunction syndrome [Fatal]
  - Stress [Fatal]
  - Cardiogenic shock [Fatal]
  - Appendicitis [Fatal]
  - Off label use [Fatal]
  - Blood phosphorus increased [Fatal]
  - Condition aggravated [Fatal]
  - Myasthenia gravis [Fatal]
  - Blood cholesterol increased [Fatal]
  - Blood uric acid increased [Fatal]
  - Dry mouth [Fatal]
  - Hyponatraemia [Fatal]
  - Somnolence [Fatal]
  - Abdominal pain [Fatal]
  - Vomiting [Fatal]
  - Nausea [Fatal]
  - Anaemia [Fatal]
  - Analgesic therapy [Fatal]
  - Bacterial infection [Fatal]
  - Diabetes mellitus [Fatal]
  - Drug hypersensitivity [Fatal]
  - Drug intolerance [Fatal]
  - Drug therapy [Fatal]
  - Dyspnoea [Fatal]
  - Hypophosphataemia [Fatal]
  - Incorrect route of product administration [Fatal]
  - Intentional product misuse [Fatal]
  - Iron deficiency [Fatal]
  - Neuralgia [Fatal]
  - Product use in unapproved indication [Fatal]
  - Pulmonary embolism [Fatal]
  - Sleep disorder [Fatal]
  - Sleep disorder therapy [Fatal]
  - Swelling [Fatal]
  - Thrombosis [Fatal]
  - Hyperphosphataemia [Fatal]
  - Chronic obstructive pulmonary disease [Fatal]
  - Abdominal distension [Fatal]
  - Blood uric acid increased [Fatal]
  - Activated partial thromboplastin time prolonged [Fatal]
  - Antacid therapy [Fatal]
  - Anticoagulant therapy [Fatal]
  - Aortic stenosis [Fatal]
  - Aspartate aminotransferase increased [Fatal]
  - Bacteroides infection [Fatal]
  - Blood phosphorus increased [Fatal]
  - End stage renal disease [Fatal]
  - Gout [Fatal]
  - Hyperlipidaemia [Fatal]
  - Hypertension [Fatal]
  - Troponin increased [Fatal]
  - Ulcer [Fatal]

NARRATIVE: CASE EVENT DATE: 20200601
